FAERS Safety Report 23538816 (Version 9)
Quarter: 2025Q3

REPORT INFORMATION
  Report Type: Spontaneous
  Country: CA (occurrence: CA)
  Receive Date: 20240219
  Receipt Date: 20250930
  Transmission Date: 20251021
  Serious: Yes (Life-Threatening, Hospitalization, Other)
  Sender: MYLAN
  Company Number: CA-MYLANLABS-2024M1012872

PATIENT
  Age: 77 Year
  Sex: Female

DRUGS (1137)
  1. LEVOTHYROXINE [Interacting]
     Active Substance: LEVOTHYROXINE
     Indication: Urinary tract infection
     Dosage: 88 NANOGRAM, QD (1 EVERY 1 DAYS)
  2. LEVOTHYROXINE [Interacting]
     Active Substance: LEVOTHYROXINE
     Indication: Thyroid disorder
  3. LEVOTHYROXINE [Interacting]
     Active Substance: LEVOTHYROXINE
     Indication: Radioactive iodine therapy
     Dosage: 1 DOSAGE FORM, QD (1 EVERY 1 DAYS)
  4. LEVOTHYROXINE [Interacting]
     Active Substance: LEVOTHYROXINE
     Indication: Constipation
     Dosage: 0.09 MILLIGRAM, QD (1 EVERY 1 DAYS)
  5. LEVOTHYROXINE [Interacting]
     Active Substance: LEVOTHYROXINE
     Dosage: 0.09 MILLIGRAM, QD (1 EVERY 1 DAYS)
  6. LEVOTHYROXINE [Interacting]
     Active Substance: LEVOTHYROXINE
     Dosage: 1244 MILLIGRAM, QD (1 EVERY 1 DAYS)
  7. LEVOTHYROXINE [Interacting]
     Active Substance: LEVOTHYROXINE
     Dosage: 0.89 MILLIGRAM, QD (1 EVERY 1 DAYS)
  8. LEVOTHYROXINE [Interacting]
     Active Substance: LEVOTHYROXINE
  9. LEVOTHYROXINE [Interacting]
     Active Substance: LEVOTHYROXINE
     Dosage: 0.88 MILLIGRAM, QD (1 EVERY 1 DAYS)
  10. LEVOTHYROXINE [Interacting]
     Active Substance: LEVOTHYROXINE
     Dosage: 250 MILLIGRAM, QD (1 EVERY 1 DAYS)
  11. LEVOTHYROXINE [Interacting]
     Active Substance: LEVOTHYROXINE
  12. LEVOTHYROXINE [Interacting]
     Active Substance: LEVOTHYROXINE
     Dosage: 0.08 MILLIGRAM, QD
  13. LEVOTHYROXINE [Interacting]
     Active Substance: LEVOTHYROXINE
     Dosage: 0.088 MILLIGRAM, QD (1 EVERY 1 DAYS)
  14. LEVOTHYROXINE [Interacting]
     Active Substance: LEVOTHYROXINE
  15. LEVOTHYROXINE [Interacting]
     Active Substance: LEVOTHYROXINE
     Dosage: 88 MILLIGRAM, QD
  16. MORPHINE [Interacting]
     Active Substance: MORPHINE
     Indication: Fibromyalgia
  17. MORPHINE [Interacting]
     Active Substance: MORPHINE
     Indication: Dyspnoea
     Dosage: 10 MILLIGRAM, QD
  18. AMLODIPINE [Interacting]
     Active Substance: AMLODIPINE BESYLATE
     Indication: Hypertension
     Dosage: 5 MILLIGRAM, QD (1 EVERY 1 DAYS)
  19. AMLODIPINE [Interacting]
     Active Substance: AMLODIPINE BESYLATE
     Indication: Coronary artery disease
  20. AMLODIPINE BESYLATE [Interacting]
     Active Substance: AMLODIPINE BESYLATE
     Indication: Hypertension
  21. AMLODIPINE BESYLATE [Interacting]
     Active Substance: AMLODIPINE BESYLATE
     Indication: Coronary artery disease
     Dosage: 50 MILLIGRAM, QD (1 EVERY 1 DAYS)
  22. AMLODIPINE BESYLATE [Interacting]
     Active Substance: AMLODIPINE BESYLATE
     Indication: Constipation
     Dosage: 5 MILLIGRAM, QD (1 EVERY 1 DAYS)
  23. AMLODIPINE BESYLATE [Interacting]
     Active Substance: AMLODIPINE BESYLATE
     Indication: Chest pain
  24. AMLODIPINE BESYLATE [Interacting]
     Active Substance: AMLODIPINE BESYLATE
     Indication: Angina pectoris
  25. NITROGLYCERIN [Interacting]
     Active Substance: NITROGLYCERIN
     Indication: Coronary artery disease
  26. NITROGLYCERIN [Interacting]
     Active Substance: NITROGLYCERIN
     Indication: Angina pectoris
  27. NITROGLYCERIN [Interacting]
     Active Substance: NITROGLYCERIN
     Dosage: 1 DOSAGE FORM, QD (1 EVERY 1 DAY)
  28. NITROGLYCERIN [Interacting]
     Active Substance: NITROGLYCERIN
  29. NITROGLYCERIN [Interacting]
     Active Substance: NITROGLYCERIN
     Dosage: 0.4 MILLIGRAM, QD (1 EVERY 1 DAYS)
  30. NITROGLYCERIN [Interacting]
     Active Substance: NITROGLYCERIN
  31. NITROGLYCERIN [Interacting]
     Active Substance: NITROGLYCERIN
     Dosage: 6 MILLIGRAM, QD (1 EVERY 1 DAYS)
  32. NITROGLYCERIN [Interacting]
     Active Substance: NITROGLYCERIN
     Dosage: 0.6 MILLIGRAM, QD (1 EVERY 1 DAYS)
  33. NITROGLYCERIN [Interacting]
     Active Substance: NITROGLYCERIN
     Indication: Hypertension
  34. NITROGLYCERIN [Interacting]
     Active Substance: NITROGLYCERIN
     Indication: Coronary artery disease
  35. NITROGLYCERIN [Interacting]
     Active Substance: NITROGLYCERIN
     Indication: Chest pain
     Dosage: 0.6 MILLIGRAM, QD (1 EVERY 1 DAYS)
  36. NITROGLYCERIN [Interacting]
     Active Substance: NITROGLYCERIN
     Indication: Angina pectoris
     Dosage: 1 DOSAGE FORM, QD (1 EVERY 1 DAYS)
  37. NITROGLYCERIN [Interacting]
     Active Substance: NITROGLYCERIN
  38. NITROGLYCERIN [Interacting]
     Active Substance: NITROGLYCERIN
     Dosage: 0.1 DOSAGE FORM, QD (1 EVERY 1 DAYS)
  39. NITROGLYCERIN [Interacting]
     Active Substance: NITROGLYCERIN
     Dosage: 0.6 MILLIGRAM, QD (1 EVERY 1 DAYS)
  40. NITROGLYCERIN [Interacting]
     Active Substance: NITROGLYCERIN
     Dosage: 0.4 MILLIGRAM, QD (1 EVERY 1 DAY)
  41. NITROGLYCERIN [Interacting]
     Active Substance: NITROGLYCERIN
     Dosage: 40 MILLIGRAM, QD (1 EVERY 1 DAYS)
  42. NITROGLYCERIN [Interacting]
     Active Substance: NITROGLYCERIN
  43. NITROGLYCERIN [Interacting]
     Active Substance: NITROGLYCERIN
  44. NITROGLYCERIN [Interacting]
     Active Substance: NITROGLYCERIN
     Dosage: 0.1 DOSAGE FORM, QD (1 EVERY 1 DAYS)
  45. LEVOFLOXACIN HEMIHYDRATE [Interacting]
     Active Substance: LEVOFLOXACIN
     Indication: Urinary tract infection
     Dosage: 200 MILLIGRAM, QD (1 EVERY 1 DAYS)
  46. LEVOFLOXACIN HEMIHYDRATE [Interacting]
     Active Substance: LEVOFLOXACIN
     Dosage: 250 MILLIGRAM, QD (1 EVERY 1 DAYS)
  47. LEVOFLOXACIN HEMIHYDRATE [Interacting]
     Active Substance: LEVOFLOXACIN
     Dosage: UNK, QD (1 EVERY 1 DAYS)
  48. ACETAMINOPHEN\CODEINE PHOSPHATE [Interacting]
     Active Substance: ACETAMINOPHEN\CODEINE PHOSPHATE
     Indication: Pain
  49. SODIUM PICOSULFATE [Interacting]
     Active Substance: SODIUM PICOSULFATE
     Indication: Constipation
     Dosage: 2 DOSAGE FORM, QD (1 EVERY 1 DAYS)
  50. CAFFEINE [Interacting]
     Active Substance: CAFFEINE
     Indication: Product used for unknown indication
  51. SENNOSIDES [Interacting]
     Active Substance: SENNOSIDES
     Indication: Pain
  52. ACETAMINOPHEN [Interacting]
     Active Substance: ACETAMINOPHEN
     Indication: Fibromyalgia
  53. ACETAMINOPHEN [Interacting]
     Active Substance: ACETAMINOPHEN
     Indication: Radioactive iodine therapy
  54. ACETAMINOPHEN [Interacting]
     Active Substance: ACETAMINOPHEN
     Indication: Pain
     Dosage: 650 MILLIGRAM, QD (1 EVERY 1 DAYS)
  55. ACETAMINOPHEN [Interacting]
     Active Substance: ACETAMINOPHEN
     Indication: Angina pectoris
     Dosage: 650 MILLIGRAM,QID (1 EVERY 6 HOURS)
  56. ACETAMINOPHEN [Interacting]
     Active Substance: ACETAMINOPHEN
     Dosage: 600 MILLIGRAM, QD ( 1 EVERY 1 DAYS)
  57. ACETAMINOPHEN [Interacting]
     Active Substance: ACETAMINOPHEN
  58. ACETAMINOPHEN [Interacting]
     Active Substance: ACETAMINOPHEN
     Dosage: 50 MILLIGRAM, QD (1 EVERY 1 DAYS))
  59. ZINC [Interacting]
     Active Substance: ZINC
     Indication: Product used for unknown indication
  60. CALCIUM CARBONATE [Interacting]
     Active Substance: CALCIUM CARBONATE
     Indication: Product used for unknown indication
  61. ASPIRIN [Interacting]
     Active Substance: ASPIRIN
     Indication: Cerebrovascular accident
     Dosage: 1 DOSAGE FORM, BID (1 EVERY 12 HOURS)
  62. ASPIRIN [Interacting]
     Active Substance: ASPIRIN
     Indication: Hypertension
  63. ASPIRIN [Interacting]
     Active Substance: ASPIRIN
     Indication: Coronary artery disease
  64. ASPIRIN [Interacting]
     Active Substance: ASPIRIN
     Indication: Angina pectoris
  65. MAGNESIUM OXIDE [Interacting]
     Active Substance: MAGNESIUM OXIDE
     Indication: Constipation
  66. MAGNESIUM OXIDE [Interacting]
     Active Substance: MAGNESIUM OXIDE
     Dosage: 1 DOSAGE FORM, BID (1 EVERY 12 HOURS)
  67. MAGNESIUM OXIDE [Interacting]
     Active Substance: MAGNESIUM OXIDE
     Dosage: 2 DOSAGE FORM, QD
  68. MAGNESIUM OXIDE [Interacting]
     Active Substance: MAGNESIUM OXIDE
     Dosage: 622 MILLIGRAM, QD
  69. LEVOFLOXACIN [Interacting]
     Active Substance: LEVOFLOXACIN
     Indication: Urinary tract infection
  70. LEVOFLOXACIN [Interacting]
     Active Substance: LEVOFLOXACIN
     Indication: Thyroid disorder
  71. LEVOFLOXACIN [Interacting]
     Active Substance: LEVOFLOXACIN
     Indication: Radioactive iodine therapy
     Dosage: 200 MILLIGRAM, QD (1 EVERY 1 DAYS)
  72. LEVOFLOXACIN [Interacting]
     Active Substance: LEVOFLOXACIN
  73. LEVOFLOXACIN [Interacting]
     Active Substance: LEVOFLOXACIN
     Dosage: 250 MILLIGRAM, QD (1 EVERY 1 DAYS)
  74. LEVOFLOXACIN [Interacting]
     Active Substance: LEVOFLOXACIN
     Dosage: 250 MILLIGRAM, QD (1 EVERY 12 HOURS)
  75. LEVOFLOXACIN [Interacting]
     Active Substance: LEVOFLOXACIN
  76. LEVOFLOXACIN [Interacting]
     Active Substance: LEVOFLOXACIN
     Dosage: 250 MILLIGRAM, BID (1 EVERY 12 HOURS)
  77. CALCIUM [Interacting]
     Active Substance: CALCIUM
     Indication: Product used for unknown indication
  78. ROSUVASTATIN CALCIUM [Interacting]
     Active Substance: ROSUVASTATIN CALCIUM
     Indication: Cerebrovascular accident
     Dosage: 20 MILLIGRAM, BID (1 EVERY 12 HOURS)
  79. ROSUVASTATIN CALCIUM [Interacting]
     Active Substance: ROSUVASTATIN CALCIUM
     Indication: Insomnia
  80. ROSUVASTATIN CALCIUM [Interacting]
     Active Substance: ROSUVASTATIN CALCIUM
     Indication: Hypertension
     Dosage: 20 MILLIGRAM, BID (2 EVERY 1 DAYS)
  81. ROSUVASTATIN CALCIUM [Interacting]
     Active Substance: ROSUVASTATIN CALCIUM
     Indication: Coronary artery disease
  82. ROSUVASTATIN CALCIUM [Interacting]
     Active Substance: ROSUVASTATIN CALCIUM
     Indication: Chronic obstructive pulmonary disease
     Dosage: 40 MILLIGRAM, BID (1 EVERY 1 DAYS)
  83. ROSUVASTATIN CALCIUM [Interacting]
     Active Substance: ROSUVASTATIN CALCIUM
     Indication: Chest pain
  84. ROSUVASTATIN CALCIUM [Interacting]
     Active Substance: ROSUVASTATIN CALCIUM
     Indication: Angina pectoris
  85. ROSUVASTATIN CALCIUM [Interacting]
     Active Substance: ROSUVASTATIN CALCIUM
     Dosage: 400 MILLIGRAM, QD (1 EVERY 1 DAYS)
  86. ROSUVASTATIN CALCIUM [Interacting]
     Active Substance: ROSUVASTATIN CALCIUM
  87. ROSUVASTATIN CALCIUM [Interacting]
     Active Substance: ROSUVASTATIN CALCIUM
     Dosage: 10 MILLIGRAM, QD (1 EVERY 1 DAYS)
  88. ROSUVASTATIN CALCIUM [Interacting]
     Active Substance: ROSUVASTATIN CALCIUM
     Dosage: 200 MILLIGRAM, BID (1 EVERY 12 HOURS)
  89. ROSUVASTATIN CALCIUM [Interacting]
     Active Substance: ROSUVASTATIN CALCIUM
  90. ROSUVASTATIN CALCIUM [Interacting]
     Active Substance: ROSUVASTATIN CALCIUM
     Dosage: 400 MILLIGRAM, QD (1 EVERY 1 DAYS)
  91. ROSUVASTATIN CALCIUM [Interacting]
     Active Substance: ROSUVASTATIN CALCIUM
  92. ROSUVASTATIN CALCIUM [Interacting]
     Active Substance: ROSUVASTATIN CALCIUM
  93. ROSUVASTATIN CALCIUM [Interacting]
     Active Substance: ROSUVASTATIN CALCIUM
     Dosage: 20 MILLIGRAM, QD (1 EVERY 1 DAYS)
  94. ROSUVASTATIN CALCIUM [Interacting]
     Active Substance: ROSUVASTATIN CALCIUM
  95. ROSUVASTATIN CALCIUM [Interacting]
     Active Substance: ROSUVASTATIN CALCIUM
     Dosage: 30 MILLIGRAM, QD (1 EVERY 1 DAY)
  96. ROSUVASTATIN CALCIUM [Interacting]
     Active Substance: ROSUVASTATIN CALCIUM
  97. ROSUVASTATIN CALCIUM [Interacting]
     Active Substance: ROSUVASTATIN CALCIUM
     Dosage: 20 MILLIGRAM, BID (1 EVERY 12 HOURS)
  98. ROSUVASTATIN CALCIUM [Interacting]
     Active Substance: ROSUVASTATIN CALCIUM
     Dosage: 200 MILLIGRAM, BID (1 EVERY 12 HOURS)
  99. ROSUVASTATIN CALCIUM [Interacting]
     Active Substance: ROSUVASTATIN CALCIUM
     Dosage: 40 MILLIGRAM, QD (1 EVERY 1 DAYS)
  100. ROSUVASTATIN CALCIUM [Interacting]
     Active Substance: ROSUVASTATIN CALCIUM
     Dosage: UNK, BID (1 EVERY 12 HOURS)
  101. ROSUVASTATIN CALCIUM [Interacting]
     Active Substance: ROSUVASTATIN CALCIUM
     Dosage: 20 MILLIGRAM, QD (1 EVERY 1 DAYS)
  102. ROSUVASTATIN CALCIUM [Interacting]
     Active Substance: ROSUVASTATIN CALCIUM
     Dosage: 30 MILLIGRAM, QD (1 EVERY 1 DAY)
  103. ACEBUTOLOL HYDROCHLORIDE [Interacting]
     Active Substance: ACEBUTOLOL HYDROCHLORIDE
     Indication: Hypertension
     Dosage: 100 MILLIGRAM, BID (2 EVERY 1 DAYS)
  104. ACEBUTOLOL HYDROCHLORIDE [Interacting]
     Active Substance: ACEBUTOLOL HYDROCHLORIDE
     Indication: Coronary artery disease
     Dosage: 200 MILLIGRAM, BID (2 EVERY 1 DAYS)
  105. ACEBUTOLOL HYDROCHLORIDE [Interacting]
     Active Substance: ACEBUTOLOL HYDROCHLORIDE
     Indication: Angina pectoris
  106. ACEBUTOLOL HYDROCHLORIDE [Interacting]
     Active Substance: ACEBUTOLOL HYDROCHLORIDE
     Indication: Constipation
  107. ACEBUTOLOL HYDROCHLORIDE [Interacting]
     Active Substance: ACEBUTOLOL HYDROCHLORIDE
     Indication: Chest pain
     Dosage: 50 MILLIGRAM, QD (1 EVERY 1 DAYS)
  108. ACEBUTOLOL HYDROCHLORIDE [Interacting]
     Active Substance: ACEBUTOLOL HYDROCHLORIDE
     Indication: Chronic obstructive pulmonary disease
     Dosage: 1000 MILLIGRAM, QW (1 EVERY 1 WEEKS)
  109. ACEBUTOLOL HYDROCHLORIDE [Interacting]
     Active Substance: ACEBUTOLOL HYDROCHLORIDE
     Dosage: 800 MILLIGRAM, QW (1 EVERY 1 WEEKS)
  110. ACEBUTOLOL HYDROCHLORIDE [Interacting]
     Active Substance: ACEBUTOLOL HYDROCHLORIDE
     Dosage: 500 MILLIGRAM, QW (1 EVERY 1 WEEKS)
  111. ACEBUTOLOL HYDROCHLORIDE [Interacting]
     Active Substance: ACEBUTOLOL HYDROCHLORIDE
     Dosage: 100 MILLIGRAM, QW (1 EVERY 1 WEEKS)
  112. ACEBUTOLOL HYDROCHLORIDE [Interacting]
     Active Substance: ACEBUTOLOL HYDROCHLORIDE
  113. ACEBUTOLOL HYDROCHLORIDE [Interacting]
     Active Substance: ACEBUTOLOL HYDROCHLORIDE
     Dosage: 200 MILLIGRAM, QW (1 EVERY 1 WEEKS)
  114. ACEBUTOLOL HYDROCHLORIDE [Interacting]
     Active Substance: ACEBUTOLOL HYDROCHLORIDE
     Dosage: 200 MILLIGRAM, QD (1 EVERY 1 DAYS)
  115. ACEBUTOLOL HYDROCHLORIDE [Interacting]
     Active Substance: ACEBUTOLOL HYDROCHLORIDE
     Dosage: 400 MILLIGRAM, QW (1 EVERY 1 WEEKS)
  116. ACEBUTOLOL HYDROCHLORIDE [Interacting]
     Active Substance: ACEBUTOLOL HYDROCHLORIDE
  117. ACEBUTOLOL HYDROCHLORIDE [Interacting]
     Active Substance: ACEBUTOLOL HYDROCHLORIDE
  118. ACEBUTOLOL HYDROCHLORIDE [Interacting]
     Active Substance: ACEBUTOLOL HYDROCHLORIDE
     Dosage: 50 MILLIGRAM, BID (2 EVERY 1 DAYS)
  119. ACEBUTOLOL HYDROCHLORIDE [Interacting]
     Active Substance: ACEBUTOLOL HYDROCHLORIDE
     Dosage: 100 MILLIGRAM, QD (1 EVERY 1 DAY)
  120. ACEBUTOLOL HYDROCHLORIDE [Interacting]
     Active Substance: ACEBUTOLOL HYDROCHLORIDE
     Dosage: 400 MILLIGRAM, QD (1 EVERY 1 DAY)
  121. ACEBUTOLOL HYDROCHLORIDE [Interacting]
     Active Substance: ACEBUTOLOL HYDROCHLORIDE
  122. ACEBUTOLOL HYDROCHLORIDE [Interacting]
     Active Substance: ACEBUTOLOL HYDROCHLORIDE
  123. ACEBUTOLOL HYDROCHLORIDE [Interacting]
     Active Substance: ACEBUTOLOL HYDROCHLORIDE
  124. ACEBUTOLOL HYDROCHLORIDE [Interacting]
     Active Substance: ACEBUTOLOL HYDROCHLORIDE
     Dosage: 400 MILLIGRAM, BID (2 EVERY 1 DAY)
  125. ACEBUTOLOL HYDROCHLORIDE [Interacting]
     Active Substance: ACEBUTOLOL HYDROCHLORIDE
     Dosage: 500 MILLIGRAM, QD (1 EVERY 1 DAY)
  126. ACEBUTOLOL HYDROCHLORIDE [Interacting]
     Active Substance: ACEBUTOLOL HYDROCHLORIDE
     Dosage: 800 MILLIGRAM, QD (1 EVERY 1 DAY)
  127. AMITRIPTYLINE [Interacting]
     Active Substance: AMITRIPTYLINE
     Indication: Insomnia
     Dosage: 50 MILLIGRAM, QD (1 EVERY 1 DAYS)
  128. AMITRIPTYLINE [Interacting]
     Active Substance: AMITRIPTYLINE
     Indication: Chest pain
     Dosage: 75 MILLIGRAM, QD (1 EVERY 1 DAYS)
  129. AMITRIPTYLINE [Interacting]
     Active Substance: AMITRIPTYLINE
     Dosage: 25 MILLIGRAM, QD
  130. AMITRIPTYLINE HYDROCHLORIDE [Interacting]
     Active Substance: AMITRIPTYLINE HYDROCHLORIDE
     Indication: Thyroid disorder
  131. AMITRIPTYLINE HYDROCHLORIDE [Interacting]
     Active Substance: AMITRIPTYLINE HYDROCHLORIDE
     Indication: Radioactive iodine therapy
     Dosage: 50 MILLIGRAM, QD (1 EVERY 1 DAYS)
  132. AMITRIPTYLINE HYDROCHLORIDE [Interacting]
     Active Substance: AMITRIPTYLINE HYDROCHLORIDE
     Indication: Prophylaxis
     Dosage: 75 MILLIGRAM, QD (1 EVERY 1 DAYS)
  133. AMITRIPTYLINE HYDROCHLORIDE [Interacting]
     Active Substance: AMITRIPTYLINE HYDROCHLORIDE
     Indication: Pain
  134. AMITRIPTYLINE HYDROCHLORIDE [Interacting]
     Active Substance: AMITRIPTYLINE HYDROCHLORIDE
     Indication: Oedema
  135. AMITRIPTYLINE HYDROCHLORIDE [Interacting]
     Active Substance: AMITRIPTYLINE HYDROCHLORIDE
     Indication: Insomnia
  136. AMITRIPTYLINE HYDROCHLORIDE [Interacting]
     Active Substance: AMITRIPTYLINE HYDROCHLORIDE
     Indication: Hypertension
     Dosage: 5 MILLIGRAM, QD (1 EVERY 1 DAYS)
  137. AMITRIPTYLINE HYDROCHLORIDE [Interacting]
     Active Substance: AMITRIPTYLINE HYDROCHLORIDE
     Indication: Fibromyalgia
  138. AMITRIPTYLINE HYDROCHLORIDE [Interacting]
     Active Substance: AMITRIPTYLINE HYDROCHLORIDE
     Indication: Duodenal ulcer
  139. AMITRIPTYLINE HYDROCHLORIDE [Interacting]
     Active Substance: AMITRIPTYLINE HYDROCHLORIDE
     Indication: Dementia
     Dosage: 25 MILLIGRAM, QD (1 EVERY 1 DAYS)
  140. AMITRIPTYLINE HYDROCHLORIDE [Interacting]
     Active Substance: AMITRIPTYLINE HYDROCHLORIDE
     Indication: Coronary artery disease
  141. AMITRIPTYLINE HYDROCHLORIDE [Interacting]
     Active Substance: AMITRIPTYLINE HYDROCHLORIDE
     Indication: Constipation
     Dosage: 750 MILLIGRAM, QD (1 EVERY 1 DAYS)
  142. AMITRIPTYLINE HYDROCHLORIDE [Interacting]
     Active Substance: AMITRIPTYLINE HYDROCHLORIDE
     Indication: Chest pain
  143. AMITRIPTYLINE HYDROCHLORIDE [Interacting]
     Active Substance: AMITRIPTYLINE HYDROCHLORIDE
     Indication: Arthritis
  144. AMITRIPTYLINE HYDROCHLORIDE [Interacting]
     Active Substance: AMITRIPTYLINE HYDROCHLORIDE
     Indication: Angina pectoris
  145. AMITRIPTYLINE HYDROCHLORIDE [Interacting]
     Active Substance: AMITRIPTYLINE HYDROCHLORIDE
     Dosage: 500 MILLIGRAM, QD (1 EVERY 1 DAYS)
  146. AMITRIPTYLINE HYDROCHLORIDE [Interacting]
     Active Substance: AMITRIPTYLINE HYDROCHLORIDE
  147. AMITRIPTYLINE HYDROCHLORIDE [Interacting]
     Active Substance: AMITRIPTYLINE HYDROCHLORIDE
  148. BISACODYL [Interacting]
     Active Substance: BISACODYL
     Indication: Constipation
     Dosage: 2 DOSAGE FORM, QD (1 EVERY 1 DAYS)
  149. BISACODYL [Interacting]
     Active Substance: BISACODYL
     Indication: Chronic obstructive pulmonary disease
     Dosage: 1 DOSAGE FORM, QD (1 EVERY 1 DAYS)
  150. BISACODYL [Interacting]
     Active Substance: BISACODYL
  151. BISACODYL [Interacting]
     Active Substance: BISACODYL
  152. BISACODYL [Interacting]
     Active Substance: BISACODYL
     Dosage: UNK, QD (1 EVERY 1 DAYS)
  153. BISACODYL [Interacting]
     Active Substance: BISACODYL
     Dosage: 650 MILLIGRAM, QD (1 EVERY 1 DAY)
  154. BISACODYL [Interacting]
     Active Substance: BISACODYL
  155. BISACODYL [Interacting]
     Active Substance: BISACODYL
  156. BISACODYL [Interacting]
     Active Substance: BISACODYL
     Dosage: 2 DOSAGE FORM, QD (1 EVERY 1 DAYS)
  157. BISACODYL [Interacting]
     Active Substance: BISACODYL
     Dosage: 2 DOSAGE FORM, QD (1 EVERY 1 DAYS)
  158. CARBAMAZEPINE [Interacting]
     Active Substance: CARBAMAZEPINE
     Indication: Seizure
     Dosage: 100 MILLIGRAM, BID (1 EVERY 12 HOURS)
  159. CARBAMAZEPINE [Interacting]
     Active Substance: CARBAMAZEPINE
     Indication: Pain
     Dosage: 200 MILLIGRAM, BID (2 EVERY 1 DAYS)
  160. CARBAMAZEPINE [Interacting]
     Active Substance: CARBAMAZEPINE
     Indication: Fibromyalgia
  161. CARBAMAZEPINE [Interacting]
     Active Substance: CARBAMAZEPINE
     Indication: Bladder disorder
     Dosage: 500 MILLIGRAM, BID (1 EVERY 12 HOURS)
  162. CARBAMAZEPINE [Interacting]
     Active Substance: CARBAMAZEPINE
     Indication: Seizure prophylaxis
     Dosage: 100 MILLIGRAM, QD (1 EVERY 1 DAYS)
  163. CARBAMAZEPINE [Interacting]
     Active Substance: CARBAMAZEPINE
     Dosage: 1 DOSAGE FORM, BID (1 EVERY 12 HOURS)
  164. CARBAMAZEPINE [Interacting]
     Active Substance: CARBAMAZEPINE
     Dosage: 100 MILLIGRAM, BID (2 EVERY 1 DAYS)
  165. CARBAMAZEPINE [Interacting]
     Active Substance: CARBAMAZEPINE
     Dosage: 800 MILLIGRAM, BID (2 EVERY 1 DAYS)
  166. CARBAMAZEPINE [Interacting]
     Active Substance: CARBAMAZEPINE
     Dosage: 2000 MILLIGRAM, QD (1 EVERY 1 DAYS)
  167. CARBAMAZEPINE [Interacting]
     Active Substance: CARBAMAZEPINE
  168. CARBAMAZEPINE [Interacting]
     Active Substance: CARBAMAZEPINE
     Dosage: 2 DOSAGE FORM, QD (1 EVERY 1 DAYS)
  169. CARBAMAZEPINE [Interacting]
     Active Substance: CARBAMAZEPINE
  170. CARBAMAZEPINE [Interacting]
     Active Substance: CARBAMAZEPINE
     Dosage: 400 MILLIGRAM, BID (2 EVERY 1 DAYS)
  171. CARBAMAZEPINE [Interacting]
     Active Substance: CARBAMAZEPINE
     Dosage: 2 DOSAGE FORM, BID (1 EVERY 12 HOURS)
  172. CARBAMAZEPINE [Interacting]
     Active Substance: CARBAMAZEPINE
  173. CARBAMAZEPINE [Interacting]
     Active Substance: CARBAMAZEPINE
  174. CARBAMAZEPINE [Interacting]
     Active Substance: CARBAMAZEPINE
     Dosage: UNK, BID (2 EVERY 1 DAYS)
  175. CARBAMAZEPINE [Interacting]
     Active Substance: CARBAMAZEPINE
     Dosage: 1 DOSAGE FORM, QD (1 EVERY 1 DAYS)
  176. CARBAMAZEPINE [Interacting]
     Active Substance: CARBAMAZEPINE
     Dosage: 200 MILLIGRAM, BID (1 EVERY 12 HOURS)
  177. CARBAMAZEPINE [Interacting]
     Active Substance: CARBAMAZEPINE
     Dosage: 200 MILLIGRAM, QD (1 EVERY 1 DAYS)
  178. CARBAMAZEPINE [Interacting]
     Active Substance: CARBAMAZEPINE
     Dosage: 500 MILLIGRAM, QD (1 EVERY 1 DAYS)
  179. CARBAMAZEPINE [Interacting]
     Active Substance: CARBAMAZEPINE
  180. CRANBERRY [Interacting]
     Active Substance: CRANBERRY
     Indication: Bladder disorder
  181. CRANBERRY [Interacting]
     Active Substance: CRANBERRY
     Dosage: 500 MILLIGRAM, TID (1 EVERY 8 HOURS)
  182. CYCLOBENZAPRINE [Interacting]
     Active Substance: CYCLOBENZAPRINE
     Indication: Fibromyalgia
     Dosage: 5 MILLIGRAM, BID (1 EVERY 12 HOURS)
  183. CYCLOBENZAPRINE [Interacting]
     Active Substance: CYCLOBENZAPRINE
     Indication: Seizure prophylaxis
     Dosage: 5 MILLIGRAM, TID (1 EVERY 8 HOURS)
  184. CYCLOBENZAPRINE [Interacting]
     Active Substance: CYCLOBENZAPRINE
     Indication: Seizure
  185. CYCLOBENZAPRINE [Interacting]
     Active Substance: CYCLOBENZAPRINE
     Indication: Pain
     Dosage: 5.61 MILLIGRAM, QD (1 EVERY 1 DAYS)
  186. CYCLOBENZAPRINE [Interacting]
     Active Substance: CYCLOBENZAPRINE
     Dosage: 15 MILLIGRAM, QD (1 EVERY 1 DAYS)
  187. CYCLOBENZAPRINE [Interacting]
     Active Substance: CYCLOBENZAPRINE
  188. CYCLOBENZAPRINE [Interacting]
     Active Substance: CYCLOBENZAPRINE
     Dosage: UNK UNK, QD (1 EVERY 1 DAYS)
  189. CYCLOBENZAPRINE [Interacting]
     Active Substance: CYCLOBENZAPRINE
     Dosage: 5 MILLIGRAM, TID (3 EVERY 1 DAYS)
  190. CYCLOBENZAPRINE [Interacting]
     Active Substance: CYCLOBENZAPRINE
     Dosage: 5 MILLIGRAM, BID (2 EVERY 1 DAYS)
  191. CYCLOBENZAPRINE [Interacting]
     Active Substance: CYCLOBENZAPRINE
  192. CYCLOBENZAPRINE [Interacting]
     Active Substance: CYCLOBENZAPRINE
     Dosage: 100 MILLIGRAM, BID (2 EVERY 1 DAYS)
  193. CYCLOBENZAPRINE [Interacting]
     Active Substance: CYCLOBENZAPRINE
     Dosage: 200 MILLIGRAM, BID (2 EVERY 1 DAYS)
  194. CYCLOBENZAPRINE [Interacting]
     Active Substance: CYCLOBENZAPRINE
     Dosage: 1.87 MILLIGRAM, QD (1 EVERY 1 DAYS)
  195. CYCLOBENZAPRINE [Interacting]
     Active Substance: CYCLOBENZAPRINE
     Dosage: 15 MILLIGRAM, TID (3 EVERY 1 DAYS)
  196. CYCLOBENZAPRINE [Interacting]
     Active Substance: CYCLOBENZAPRINE
     Dosage: 0.63 MILLIGRAM, BID (1 EVERY 12 HOURS)
  197. CYCLOBENZAPRINE [Interacting]
     Active Substance: CYCLOBENZAPRINE
     Dosage: 45 MILLIGRAM, QD (1 EVERY 1 DAYS)
  198. CYCLOBENZAPRINE [Interacting]
     Active Substance: CYCLOBENZAPRINE
     Dosage: 10 MILLIGRAM, QD (1 EVERY 1 DAYS)
  199. CYCLOBENZAPRINE [Interacting]
     Active Substance: CYCLOBENZAPRINE
     Dosage: 2 MILLIGRAM, QD (1 EVERY 1 DAYS)
  200. CYCLOBENZAPRINE [Interacting]
     Active Substance: CYCLOBENZAPRINE
     Dosage: 1.87 MILLIGRAM, TID (3 EVERY 1 DAYS)
  201. CYCLOBENZAPRINE [Interacting]
     Active Substance: CYCLOBENZAPRINE
     Dosage: 5 MILLIGRAM, TID (3 EVERY 1 DAYS)
  202. CYCLOBENZAPRINE [Interacting]
     Active Substance: CYCLOBENZAPRINE
  203. CYCLOBENZAPRINE [Interacting]
     Active Substance: CYCLOBENZAPRINE
  204. CYCLOBENZAPRINE [Interacting]
     Active Substance: CYCLOBENZAPRINE
     Dosage: 15 MILLIGRAM, TID (1 EVERY 8 HOURS)
  205. CYCLOBENZAPRINE [Interacting]
     Active Substance: CYCLOBENZAPRINE
  206. CYCLOBENZAPRINE [Interacting]
     Active Substance: CYCLOBENZAPRINE
  207. CYCLOBENZAPRINE [Interacting]
     Active Substance: CYCLOBENZAPRINE
  208. CYCLOBENZAPRINE [Interacting]
     Active Substance: CYCLOBENZAPRINE
  209. CYCLOBENZAPRINE [Interacting]
     Active Substance: CYCLOBENZAPRINE
     Dosage: 200 MILLIGRAM, QD (1 EVERY 1 DAYS)
  210. CYCLOBENZAPRINE [Interacting]
     Active Substance: CYCLOBENZAPRINE
     Dosage: 200 MILLIGRAM, BID (2 EVERY 12 HOURS)
  211. CYCLOBENZAPRINE [Interacting]
     Active Substance: CYCLOBENZAPRINE
     Dosage: 100 MILLIGRAM, BID (1 EVERY 12 HOURS)
  212. CYCLOBENZAPRINE [Interacting]
     Active Substance: CYCLOBENZAPRINE
     Dosage: 200 MILLIGRAM, QD (1 EVERY 12 HOURS)
  213. DILTIAZEM [Interacting]
     Active Substance: DILTIAZEM
     Indication: Hypertension
  214. DILTIAZEM [Interacting]
     Active Substance: DILTIAZEM
     Indication: Coronary artery disease
     Dosage: 360 MILLIGRAM, QD (1 EVERY 1 DAYS)
  215. DILTIAZEM [Interacting]
     Active Substance: DILTIAZEM
     Indication: Angina pectoris
  216. MAGNESIUM HYDROXIDE [Interacting]
     Active Substance: MAGNESIUM HYDROXIDE
     Indication: Constipation
     Dosage: 622 MILLIGRAM, BID (2 EVERY 1 DAYS)
  217. MAGNESIUM HYDROXIDE [Interacting]
     Active Substance: MAGNESIUM HYDROXIDE
  218. MAGNESIUM HYDROXIDE [Interacting]
     Active Substance: MAGNESIUM HYDROXIDE
     Dosage: UNK UNK, BID (2 EVERY 1 DAYS)
  219. MAGNESIUM HYDROXIDE [Interacting]
     Active Substance: MAGNESIUM HYDROXIDE
     Dosage: 4 DOSAGE FORM, QD (1 EVERY 1 DAY)
  220. MAGNESIUM HYDROXIDE [Interacting]
     Active Substance: MAGNESIUM HYDROXIDE
     Dosage: 1240 MILLIGRAM, QD (1 EVERY 1 DAY)
  221. MAGNESIUM HYDROXIDE [Interacting]
     Active Substance: MAGNESIUM HYDROXIDE
     Dosage: 2488 MILLIGRAM, QD (1 EVERY 1 DAY)
  222. MAGNESIUM HYDROXIDE [Interacting]
     Active Substance: MAGNESIUM HYDROXIDE
     Dosage: 2 DOSAGE FORM, QD (1 EVERY 1 DAY)
  223. MAGNESIUM HYDROXIDE [Interacting]
     Active Substance: MAGNESIUM HYDROXIDE
  224. MAGNESIUM HYDROXIDE [Interacting]
     Active Substance: MAGNESIUM HYDROXIDE
     Dosage: 622 MILLIGRAM, QD (1 EVERY 1 DAY)
  225. MAGNESIUM HYDROXIDE [Interacting]
     Active Substance: MAGNESIUM HYDROXIDE
     Dosage: 10 MILLIGRAM, QD (1 EVERY 1 DAY)
  226. MAGNESIUM HYDROXIDE [Interacting]
     Active Substance: MAGNESIUM HYDROXIDE
     Dosage: 622 MILLIGRAM, BID (1 EVERY 12 HOURS)
  227. MAGNESIUM HYDROXIDE [Interacting]
     Active Substance: MAGNESIUM HYDROXIDE
  228. MAGNESIUM HYDROXIDE [Interacting]
     Active Substance: MAGNESIUM HYDROXIDE
     Dosage: 2 DOSAGE FORM, BID ( 2 EVERY 1 DAY)
  229. MAGNESIUM HYDROXIDE [Interacting]
     Active Substance: MAGNESIUM HYDROXIDE
  230. MAGNESIUM HYDROXIDE [Interacting]
     Active Substance: MAGNESIUM HYDROXIDE
     Dosage: 40 DOSAGE FORM, QD (1 EVERY 1 DAY)
  231. MAGNESIUM HYDROXIDE [Interacting]
     Active Substance: MAGNESIUM HYDROXIDE
     Dosage: UNK, QD (1 EVERY 1 DAY)
  232. MAGNESIUM HYDROXIDE [Interacting]
     Active Substance: MAGNESIUM HYDROXIDE
     Dosage: 2488 MILLIGRAM, BID (2 EVERY 1 DAY)
  233. MAGNESIUM HYDROXIDE [Interacting]
     Active Substance: MAGNESIUM HYDROXIDE
     Dosage: 1244 MILLIGRAM, QD (1 EVERY 1 DAY)
  234. MAGNESIUM HYDROXIDE [Interacting]
     Active Substance: MAGNESIUM HYDROXIDE
     Dosage: 1 DOSAGE FORM, BID (2 EVERY 1 DAY)
  235. MAGNESIUM HYDROXIDE [Interacting]
     Active Substance: MAGNESIUM HYDROXIDE
     Dosage: 1 DOSAGE FORM, QD (1 EVERY 1 DAY)
  236. DIPYRIDAMOLE [Interacting]
     Active Substance: DIPYRIDAMOLE
     Indication: Cerebrovascular accident
  237. DIPYRIDAMOLE [Interacting]
     Active Substance: DIPYRIDAMOLE
     Dosage: 400 MILLIGRAM, QD (1 EVERY 1 DAYS)
  238. DIPYRIDAMOLE [Interacting]
     Active Substance: DIPYRIDAMOLE
     Dosage: 2 DOSAGE FORM, QOD (1 EVERY 2 DAYS)
  239. DIPYRIDAMOLE [Interacting]
     Active Substance: DIPYRIDAMOLE
     Dosage: 1 DOSAGE FORM, QD (1 EVERY 1 DAYS)
  240. DIPYRIDAMOLE [Interacting]
     Active Substance: DIPYRIDAMOLE
  241. DIPYRIDAMOLE [Interacting]
     Active Substance: DIPYRIDAMOLE
  242. DIPYRIDAMOLE [Interacting]
     Active Substance: DIPYRIDAMOLE
  243. DIPYRIDAMOLE [Interacting]
     Active Substance: DIPYRIDAMOLE
     Dosage: 1 DOSAGE FORM, QD (1 EVERY 1 DAYS)
  244. DIPYRIDAMOLE [Interacting]
     Active Substance: DIPYRIDAMOLE
     Dosage: 360 MILLIGRAM, QD (1 EVERY 1 DAYS)
  245. DIPYRIDAMOLE [Interacting]
     Active Substance: DIPYRIDAMOLE
  246. DIPYRIDAMOLE [Interacting]
     Active Substance: DIPYRIDAMOLE
     Dosage: 1 DOSAGE FORM, BID (2 EVERY 1 DAYS)
  247. DIPYRIDAMOLE [Interacting]
     Active Substance: DIPYRIDAMOLE
  248. DIPYRIDAMOLE [Interacting]
     Active Substance: DIPYRIDAMOLE
  249. DIPYRIDAMOLE [Interacting]
     Active Substance: DIPYRIDAMOLE
     Dosage: UNK UNK, QD (1 EVERY 1 DAYS)
  250. DIPYRIDAMOLE [Interacting]
     Active Substance: DIPYRIDAMOLE
     Dosage: 2 DOSAGE FORM, BID (2 EVERY 1 DAYS
  251. DIPYRIDAMOLE [Interacting]
     Active Substance: DIPYRIDAMOLE
  252. DIPYRIDAMOLE [Interacting]
     Active Substance: DIPYRIDAMOLE
  253. DIPYRIDAMOLE [Interacting]
     Active Substance: DIPYRIDAMOLE
     Dosage: 200 MILLIGRAM, BID (2 EVERY 1 DAYS)
  254. FUROSEMIDE [Interacting]
     Active Substance: FUROSEMIDE
     Indication: Oedema
  255. FUROSEMIDE [Interacting]
     Active Substance: FUROSEMIDE
     Indication: Coronary artery disease
     Dosage: 4 MICROGRAM, QD (1 EVERY 1 DAYS)
  256. FUROSEMIDE [Interacting]
     Active Substance: FUROSEMIDE
     Indication: Constipation
     Dosage: 20 MICROGRAM, QD (1 EVERY 1 DAYS)
  257. FUROSEMIDE [Interacting]
     Active Substance: FUROSEMIDE
     Indication: Chest pain
  258. FUROSEMIDE [Interacting]
     Active Substance: FUROSEMIDE
     Indication: Angina pectoris
     Dosage: 40 MICROGRAM, QD (1 EVERY 1 DAYS (1 EVERY 1 DAYS)
  259. FUROSEMIDE [Interacting]
     Active Substance: FUROSEMIDE
     Dosage: 10 MILLIGRAM, QD (1 EVERY 1 DAYS)
  260. FUROSEMIDE [Interacting]
     Active Substance: FUROSEMIDE
     Dosage: 40 MILLIGRAM, QD (1 EVERY 1 DAYS)
  261. FUROSEMIDE [Interacting]
     Active Substance: FUROSEMIDE
     Dosage: 20 MILLIGRAM, QD (1 EVERY 1 DAYS)
  262. FUROSEMIDE [Interacting]
     Active Substance: FUROSEMIDE
     Dosage: 20 MILLIGRAM, QD (1 EVERY 1 DAYS)
  263. FUROSEMIDE [Interacting]
     Active Substance: FUROSEMIDE
     Dosage: 4 MILLIGRAM, QD (1 EVERY 1 DAYS)
  264. FUROSEMIDE [Interacting]
     Active Substance: FUROSEMIDE
  265. FUROSEMIDE [Interacting]
     Active Substance: FUROSEMIDE
     Dosage: 40 MILLIGRAM, QD (1 EVERY 1 DAYS)
  266. GALANTAMINE HYDROBROMIDE [Interacting]
     Active Substance: GALANTAMINE HYDROBROMIDE
     Indication: Dementia
  267. GALANTAMINE HYDROBROMIDE [Interacting]
     Active Substance: GALANTAMINE HYDROBROMIDE
  268. GALANTAMINE HYDROBROMIDE [Interacting]
     Active Substance: GALANTAMINE HYDROBROMIDE
     Dosage: 16 MILLIGRAM, QD (1 EVERY 1 DAY)
  269. GALANTAMINE HYDROBROMIDE [Interacting]
     Active Substance: GALANTAMINE HYDROBROMIDE
     Dosage: 18 MILLIGRAM, QD (1 EVERY 1 DAY)
  270. GLUCOSAMINE [Interacting]
     Active Substance: GLUCOSAMINE
     Indication: Arthritis
     Dosage: 500 MILLIGRAM, BID (1 EVERY 12 HOURS)
  271. GLUCOSAMINE [Interacting]
     Active Substance: GLUCOSAMINE
     Indication: Pain
     Dosage: 2500 MILLIGRAM, QD (1 EVERY 1 DAYS)
  272. GLUCOSAMINE [Interacting]
     Active Substance: GLUCOSAMINE
     Dosage: 500 MILLIGRAM, QD (1 EVERY 1 DAYS)
  273. GLUCOSAMINE [Interacting]
     Active Substance: GLUCOSAMINE
     Dosage: 1000 MILLIGRAM, QD (1 EVERY 1 DAYS)
  274. GLUCOSAMINE [Interacting]
     Active Substance: GLUCOSAMINE
     Dosage: 500 MILLIGRAM, BID (2 EVERY 1 DAYS)
  275. GLUCOSAMINE [Interacting]
     Active Substance: GLUCOSAMINE
  276. GLUCOSAMINE [Interacting]
     Active Substance: GLUCOSAMINE
  277. GLUCOSAMINE [Interacting]
     Active Substance: GLUCOSAMINE
     Dosage: 250 MILLIGRAM, QD (1 EVERY 1 DAY)
  278. GLUCOSAMINE [Interacting]
     Active Substance: GLUCOSAMINE
     Dosage: 1000 MILLIGRAM, BID (2 EVERY 1 DAYS)
  279. LACTULOSE [Interacting]
     Active Substance: LACTULOSE
     Indication: Constipation
  280. LACTULOSE [Interacting]
     Active Substance: LACTULOSE
     Indication: Thyroid disorder
     Dosage: 15 MILLIGRAM, QD ( 1 EVERY 1 DAYS)
  281. LACTULOSE [Interacting]
     Active Substance: LACTULOSE
     Indication: Radioactive iodine therapy
     Dosage: 2 DOSAGE FORM, QD (1 EVERY 1 DAYS)
  282. LACTULOSE [Interacting]
     Active Substance: LACTULOSE
     Indication: Constipation
     Dosage: 15 MILLILITER, QD (1 EVERY 1 DAY)
  283. LACTULOSE [Interacting]
     Active Substance: LACTULOSE
     Indication: Urinary tract infection
  284. OMEPRAZOLE MAGNESIUM [Interacting]
     Active Substance: OMEPRAZOLE MAGNESIUM
     Indication: Duodenal ulcer
  285. OMEPRAZOLE MAGNESIUM [Interacting]
     Active Substance: OMEPRAZOLE MAGNESIUM
     Indication: Small intestine carcinoma
  286. OMEPRAZOLE MAGNESIUM [Interacting]
     Active Substance: OMEPRAZOLE MAGNESIUM
     Indication: Chest pain
     Dosage: 20 MILLIGRAM, QD (1 EVERY 1 DAYS)
  287. OMEPRAZOLE MAGNESIUM [Interacting]
     Active Substance: OMEPRAZOLE MAGNESIUM
     Indication: Angina pectoris
  288. OMEPRAZOLE MAGNESIUM [Interacting]
     Active Substance: OMEPRAZOLE MAGNESIUM
     Indication: Hypertension
  289. OXAZEPAM [Interacting]
     Active Substance: OXAZEPAM
     Indication: Insomnia
  290. OXAZEPAM [Interacting]
     Active Substance: OXAZEPAM
     Indication: Cerebrovascular accident
     Dosage: 150 MILLIGRAM, QD (1 EVERY 1 DAYS)
  291. OXAZEPAM [Interacting]
     Active Substance: OXAZEPAM
     Indication: Hypertension
     Dosage: 40 MILLIGRAM, QD (1 EVERY 1 DAYS)
  292. OXAZEPAM [Interacting]
     Active Substance: OXAZEPAM
     Indication: Coronary artery disease
     Dosage: 20 MILLIGRAM, QD (1 EVERY 1 DAYS)
  293. OXAZEPAM [Interacting]
     Active Substance: OXAZEPAM
     Indication: Angina pectoris
  294. OXAZEPAM [Interacting]
     Active Substance: OXAZEPAM
     Indication: Duodenal ulcer
     Dosage: 15 MILLIGRAM, QD (1 EVERY 1 DAYS)
  295. OXAZEPAM [Interacting]
     Active Substance: OXAZEPAM
     Dosage: 40 MILLIGRAM, QD (1 EVERY 1 DAYS)
  296. OXAZEPAM [Interacting]
     Active Substance: OXAZEPAM
  297. OXAZEPAM [Interacting]
     Active Substance: OXAZEPAM
  298. OXAZEPAM [Interacting]
     Active Substance: OXAZEPAM
     Dosage: UNK, QD (1 EVERY 1 DAY)
  299. OXAZEPAM [Interacting]
     Active Substance: OXAZEPAM
     Dosage: 15 MILLIGRAM, QD (1 EVERY 1 DAYS)
  300. OXAZEPAM [Interacting]
     Active Substance: OXAZEPAM
     Dosage: 20 MILLIGRAM, QD (1 EVERY 1 DAYS)
  301. OXAZEPAM [Interacting]
     Active Substance: OXAZEPAM
     Dosage: 360 MILLIGRAM, QD (1 EVERY 1 DAYS)
  302. QUINAPRIL HYDROCHLORIDE [Interacting]
     Active Substance: QUINAPRIL HYDROCHLORIDE
     Indication: Hypertension
  303. QUINAPRIL HYDROCHLORIDE [Interacting]
     Active Substance: QUINAPRIL HYDROCHLORIDE
     Indication: Coronary artery disease
     Dosage: 40 MILLIGRAM, QD (1 EVERY 1 DAYS)
  304. QUINAPRIL HYDROCHLORIDE [Interacting]
     Active Substance: QUINAPRIL HYDROCHLORIDE
     Indication: Angina pectoris
     Dosage: 20 MILLIGRAM, QD (1 EVERY 1 DAYS)
  305. QUINAPRIL HYDROCHLORIDE [Interacting]
     Active Substance: QUINAPRIL HYDROCHLORIDE
     Indication: Seizure prophylaxis
  306. QUINAPRIL HYDROCHLORIDE [Interacting]
     Active Substance: QUINAPRIL HYDROCHLORIDE
     Indication: Seizure
  307. QUINAPRIL HYDROCHLORIDE [Interacting]
     Active Substance: QUINAPRIL HYDROCHLORIDE
     Indication: Insomnia
     Dosage: 400 MILLIGRAM, QD (1 EVERY 1 DAYS)
  308. QUINAPRIL HYDROCHLORIDE [Interacting]
     Active Substance: QUINAPRIL HYDROCHLORIDE
     Indication: Fibromyalgia
  309. QUINAPRIL HYDROCHLORIDE [Interacting]
     Active Substance: QUINAPRIL HYDROCHLORIDE
     Indication: Pain
  310. QUINAPRIL HYDROCHLORIDE [Interacting]
     Active Substance: QUINAPRIL HYDROCHLORIDE
     Indication: Chest pain
     Dosage: 800 MILLIGRAM, QD (1 EVERY 1 DAYS)
  311. QUINAPRIL HYDROCHLORIDE [Interacting]
     Active Substance: QUINAPRIL HYDROCHLORIDE
     Indication: Cerebrovascular accident
  312. QUINAPRIL HYDROCHLORIDE [Interacting]
     Active Substance: QUINAPRIL HYDROCHLORIDE
     Dosage: 40 MILLIGRAM, QD (1 EVERY 1 DAYS)
  313. QUINAPRIL HYDROCHLORIDE [Interacting]
     Active Substance: QUINAPRIL HYDROCHLORIDE
     Dosage: 40 MILLIGRAM, QD (1 EVERY 1 DAYS)
  314. QUINAPRIL HYDROCHLORIDE [Interacting]
     Active Substance: QUINAPRIL HYDROCHLORIDE
     Dosage: 20 MILLIGRAM, BID (2 EVERY 1 DAY)
  315. QUINAPRIL HYDROCHLORIDE [Interacting]
     Active Substance: QUINAPRIL HYDROCHLORIDE
     Dosage: 200 MILLIGRAM, QID (4 EVERY 1 DAY)
  316. ALBUTEROL [Interacting]
     Active Substance: ALBUTEROL
     Indication: Hypertension
     Dosage: UNK, QD (1 EVERY 1 DAYS)
  317. ALBUTEROL [Interacting]
     Active Substance: ALBUTEROL
     Indication: Coronary artery disease
  318. ALBUTEROL [Interacting]
     Active Substance: ALBUTEROL
     Indication: Chest pain
  319. ALBUTEROL [Interacting]
     Active Substance: ALBUTEROL
     Indication: Angina pectoris
     Dosage: UNK UNK, QD (1 EVERY 1 DAYS)
  320. ALBUTEROL [Interacting]
     Active Substance: ALBUTEROL
     Indication: Chronic obstructive pulmonary disease
  321. ALBUTEROL [Interacting]
     Active Substance: ALBUTEROL
     Dosage: 100 MILLIGRAM, QD (1 EVERY 1 DAYS)
  322. ALBUTEROL [Interacting]
     Active Substance: ALBUTEROL
     Dosage: 400 MILLIGRAM, QD (1 EVERY 1 DAYS)
  323. ALBUTEROL [Interacting]
     Active Substance: ALBUTEROL
  324. ALBUTEROL [Interacting]
     Active Substance: ALBUTEROL
  325. ALBUTEROL [Interacting]
     Active Substance: ALBUTEROL
     Dosage: 800 MILLIGRAM, QD (1 EVERY 1 DAYS)
  326. ALBUTEROL [Interacting]
     Active Substance: ALBUTEROL
  327. ALBUTEROL [Interacting]
     Active Substance: ALBUTEROL
  328. ALBUTEROL [Interacting]
     Active Substance: ALBUTEROL
  329. ALBUTEROL [Interacting]
     Active Substance: ALBUTEROL
  330. ALBUTEROL [Interacting]
     Active Substance: ALBUTEROL
     Dosage: UNK, BID (2 EVERY 1 DAYS)
  331. ALBUTEROL [Interacting]
     Active Substance: ALBUTEROL
  332. ALBUTEROL [Interacting]
     Active Substance: ALBUTEROL
     Dosage: 500 MILLIGRAM, QD (1 EVERY 1 DAYS)
  333. ALBUTEROL [Interacting]
     Active Substance: ALBUTEROL
  334. ALBUTEROL [Interacting]
     Active Substance: ALBUTEROL
     Dosage: 100 MICROGRAM, QD (1 EVERY 1 DAY)
  335. ALBUTEROL [Interacting]
     Active Substance: ALBUTEROL
     Dosage: 200 MICROGRAM, QID (4 EVERY 1 DAY)
  336. TIOTROPIUM [Interacting]
     Active Substance: TIOTROPIUM
     Indication: Chronic obstructive pulmonary disease
  337. TIOTROPIUM [Interacting]
     Active Substance: TIOTROPIUM
     Indication: Asthma
  338. ACETAMINOSALOL\ASPIRIN\CAFFEINE [Interacting]
     Active Substance: ACETAMINOSALOL\ASPIRIN\CAFFEINE
     Indication: Product used for unknown indication
  339. ASPIRIN\CAFFEINE [Interacting]
     Active Substance: ASPIRIN\CAFFEINE
     Indication: Product used for unknown indication
  340. AGGRENOX [Interacting]
     Active Substance: ASPIRIN\DIPYRIDAMOLE
     Indication: Cerebrovascular accident
     Dosage: 1 DOSAGE FORM, QD (1 EVERY 1 DAY)
  341. AGGRENOX [Interacting]
     Active Substance: ASPIRIN\DIPYRIDAMOLE
     Indication: Hypertension
     Dosage: 2 DOSAGE FORM, QD (2 EVERY 1 DAYS)
  342. AGGRENOX [Interacting]
     Active Substance: ASPIRIN\DIPYRIDAMOLE
     Indication: Arthritis
     Dosage: 2 DOSAGE FORM, QD (1 EVERY 1 DAY)
  343. AGGRENOX [Interacting]
     Active Substance: ASPIRIN\DIPYRIDAMOLE
     Dosage: 2 DOSAGE FORM, QW (1 EVERY 1 WEEKS)
  344. AGGRENOX [Interacting]
     Active Substance: ASPIRIN\DIPYRIDAMOLE
     Dosage: 1 DOSAGE FORM, QD (2 EVERY 1 DAYS)
  345. AGGRENOX [Interacting]
     Active Substance: ASPIRIN\DIPYRIDAMOLE
  346. AGGRENOX [Interacting]
     Active Substance: ASPIRIN\DIPYRIDAMOLE
  347. AGGRENOX [Interacting]
     Active Substance: ASPIRIN\DIPYRIDAMOLE
  348. AGGRENOX [Interacting]
     Active Substance: ASPIRIN\DIPYRIDAMOLE
     Dosage: 75 MILLIGRAM, QD (1 EVERY 1 DAYS)
  349. AGGRENOX [Interacting]
     Active Substance: ASPIRIN\DIPYRIDAMOLE
     Dosage: 50 MILLIGRAM, QD (1 EVERY 1 DAYS)
  350. AGGRENOX [Interacting]
     Active Substance: ASPIRIN\DIPYRIDAMOLE
     Dosage: 4 DOSAGE FORM, QD (1 EVERY 1 DAY)
  351. AGGRENOX [Interacting]
     Active Substance: ASPIRIN\DIPYRIDAMOLE
  352. AGGRENOX [Interacting]
     Active Substance: ASPIRIN\DIPYRIDAMOLE
     Dosage: 1 DOSAGE FORM, BID (1 EVERY 12 HOURS)
  353. AGGRENOX [Interacting]
     Active Substance: ASPIRIN\DIPYRIDAMOLE
     Dosage: 500 MILLIGRAM, QD (1 EVERY 1 DAYS)
  354. DILTIAZEM HYDROCHLORIDE [Interacting]
     Active Substance: DILTIAZEM HYDROCHLORIDE
     Indication: Hypertension
  355. DILTIAZEM HYDROCHLORIDE [Interacting]
     Active Substance: DILTIAZEM HYDROCHLORIDE
     Indication: Coronary artery disease
     Dosage: 360 MILLIGRAM, QD (1 EVERY 1 DAY)
  356. DILTIAZEM HYDROCHLORIDE [Interacting]
     Active Substance: DILTIAZEM HYDROCHLORIDE
     Indication: Chest pain
     Dosage: 500 MILLIGRAM, QD (1 EVERY 1 DAY)
  357. DILTIAZEM HYDROCHLORIDE [Interacting]
     Active Substance: DILTIAZEM HYDROCHLORIDE
     Indication: Angina pectoris
  358. GALANTAMINE [Interacting]
     Active Substance: GALANTAMINE
     Indication: Dementia
     Dosage: 16 MILLIGRAM, QD (1 EVERY 1 DAY)
  359. GALANTAMINE [Interacting]
     Active Substance: GALANTAMINE
  360. GALANTAMINE [Interacting]
     Active Substance: GALANTAMINE
  361. GALANTAMINE [Interacting]
     Active Substance: GALANTAMINE
     Dosage: 18 MILLIGRAM, QD (1 EVERY 1 DAY)
  362. GALANTAMINE [Interacting]
     Active Substance: GALANTAMINE
  363. LEVALBUTEROL [Interacting]
     Active Substance: LEVALBUTEROL
     Indication: Product used for unknown indication
  364. OMEPRAZOLE [Interacting]
     Active Substance: OMEPRAZOLE
     Indication: Duodenal ulcer
     Dosage: 20 MILLIGRAM, QD (1 EVERY 1 DAYS)
  365. OMEPRAZOLE [Interacting]
     Active Substance: OMEPRAZOLE
     Indication: Small intestine carcinoma
  366. OMEPRAZOLE [Interacting]
     Active Substance: OMEPRAZOLE
     Indication: Hypertension
  367. OMEPRAZOLE [Interacting]
     Active Substance: OMEPRAZOLE
     Indication: Coronary artery disease
  368. OMEPRAZOLE [Interacting]
     Active Substance: OMEPRAZOLE
     Indication: Chest pain
  369. OMEPRAZOLE [Interacting]
     Active Substance: OMEPRAZOLE
     Indication: Angina pectoris
     Dosage: 20 MILLIGRAM, QD (1 EVERY 1 DAYS)
  370. OMEPRAZOLE [Interacting]
     Active Substance: OMEPRAZOLE
     Dosage: 20 MILLIGRAM, BID (1 EVERY 12 HOURS)
  371. OMEPRAZOLE [Interacting]
     Active Substance: OMEPRAZOLE
     Dosage: 20 MILLIGRAM, QD (1 EVERY 1 DAYS)
  372. OMEPRAZOLE [Interacting]
     Active Substance: OMEPRAZOLE
  373. OMEPRAZOLE [Interacting]
     Active Substance: OMEPRAZOLE
     Dosage: 20 MILLIGRAM, BID (2 EVERY 1 DAYS)
  374. PERSANTINE [Interacting]
     Active Substance: DIPYRIDAMOLE
     Indication: Cerebrovascular accident
  375. PERSANTINE [Interacting]
     Active Substance: DIPYRIDAMOLE
     Dosage: 2 DOSAGE FORM, QD (1 EVERY 1 DAYS)
  376. PERSANTINE [Interacting]
     Active Substance: DIPYRIDAMOLE
  377. PERSANTINE [Interacting]
     Active Substance: DIPYRIDAMOLE
  378. PERSANTINE [Interacting]
     Active Substance: DIPYRIDAMOLE
     Dosage: 1 DOSAGE FORM, BID (2 EVERY 1 DAY)
  379. PERSANTINE [Interacting]
     Active Substance: DIPYRIDAMOLE
     Dosage: 2 DOSAGE FORM, BID (2 EVERY 1 DAY)
  380. PERSANTINE [Interacting]
     Active Substance: DIPYRIDAMOLE
     Dosage: 1 DOSAGE FORM, QD (1 EVERY 1 DAYS)
  381. PERSANTINE [Interacting]
     Active Substance: DIPYRIDAMOLE
     Dosage: 20 MILLIGRAM, QD (1 EVERY 1 DAYS)
  382. PERSANTINE [Interacting]
     Active Substance: DIPYRIDAMOLE
     Dosage: UNK, QD (1 EVERY 1 DAY)
  383. SPIRIVA [Interacting]
     Active Substance: TIOTROPIUM BROMIDE MONOHYDRATE
     Indication: Constipation
  384. SPIRIVA [Interacting]
     Active Substance: TIOTROPIUM BROMIDE MONOHYDRATE
     Indication: Chronic obstructive pulmonary disease
     Dosage: 1 DOSAGE FORM, QD (1 EVERY 1 DAYS)
  385. SPIRIVA [Interacting]
     Active Substance: TIOTROPIUM BROMIDE MONOHYDRATE
     Indication: Asthma
     Dosage: 18 MICROGRAM, QD (1 EVERY 1 DAYS)
  386. SPIRIVA [Interacting]
     Active Substance: TIOTROPIUM BROMIDE MONOHYDRATE
  387. SPIRIVA [Interacting]
     Active Substance: TIOTROPIUM BROMIDE MONOHYDRATE
  388. SPIRIVA [Interacting]
     Active Substance: TIOTROPIUM BROMIDE MONOHYDRATE
     Dosage: UNK, QD (1 EVERY 1 DAYS)
  389. SPIRIVA [Interacting]
     Active Substance: TIOTROPIUM BROMIDE MONOHYDRATE
     Dosage: 18 MILLIGRAM, QD (1 EVERY 1 DAYS)
  390. SPIRIVA [Interacting]
     Active Substance: TIOTROPIUM BROMIDE MONOHYDRATE
  391. TIOTROPIUM BROMIDE MONOHYDRATE [Interacting]
     Active Substance: TIOTROPIUM BROMIDE MONOHYDRATE
     Indication: Constipation
  392. TIOTROPIUM BROMIDE MONOHYDRATE [Interacting]
     Active Substance: TIOTROPIUM BROMIDE MONOHYDRATE
     Indication: Chronic obstructive pulmonary disease
  393. TIOTROPIUM BROMIDE MONOHYDRATE [Interacting]
     Active Substance: TIOTROPIUM BROMIDE MONOHYDRATE
     Indication: Asthma
     Dosage: 18 MILLIGRAM, QD (1 EVERY 1 DAYS)
  394. TIOTROPIUM BROMIDE MONOHYDRATE [Interacting]
     Active Substance: TIOTROPIUM BROMIDE MONOHYDRATE
     Dosage: UNK UNK, QD (1 EVERY 1 DAYS)
  395. TIOTROPIUM BROMIDE MONOHYDRATE [Interacting]
     Active Substance: TIOTROPIUM BROMIDE MONOHYDRATE
     Dosage: 18 MICROGRAM, QD (1 EVERY 1 DAYS)
  396. TIOTROPIUM BROMIDE MONOHYDRATE [Interacting]
     Active Substance: TIOTROPIUM BROMIDE MONOHYDRATE
     Dosage: 1 DOSAGE FORM, QD (1 EVERY 1 DAYS)
  397. CRANBERRY [Interacting]
     Active Substance: CRANBERRY
     Indication: Bladder disorder
  398. CRANBERRY [Interacting]
     Active Substance: CRANBERRY
  399. CRANBERRY [Interacting]
     Active Substance: CRANBERRY
  400. CRANBERRY [Interacting]
     Active Substance: CRANBERRY
     Dosage: 1500 MILLIGRAM (1 EVERY 1 DAYS)
  401. ACETAMINOPHEN\CAFFEINE [Interacting]
     Active Substance: ACETAMINOPHEN\CAFFEINE
     Indication: Radioactive iodine therapy
     Dosage: 600 MILLIGRAM, QD (1 EVERY 1 DAYS)
  402. ACETAMINOPHEN\CAFFEINE [Interacting]
     Active Substance: ACETAMINOPHEN\CAFFEINE
     Indication: Pain
  403. ACETAMINOPHEN\CAFFEINE [Interacting]
     Active Substance: ACETAMINOPHEN\CAFFEINE
     Indication: Hypertension
  404. ACETAMINOPHEN\CAFFEINE [Interacting]
     Active Substance: ACETAMINOPHEN\CAFFEINE
     Indication: Coronary artery disease
     Dosage: 60 MILLIGRAM, QD (1 EVERY 1 DAYS)
  405. ACETAMINOPHEN\CAFFEINE [Interacting]
     Active Substance: ACETAMINOPHEN\CAFFEINE
     Indication: Chronic obstructive pulmonary disease
  406. ACETAMINOPHEN\CAFFEINE [Interacting]
     Active Substance: ACETAMINOPHEN\CAFFEINE
     Indication: Chest pain
  407. ACETAMINOPHEN\CAFFEINE [Interacting]
     Active Substance: ACETAMINOPHEN\CAFFEINE
     Indication: Cerebrovascular accident
     Dosage: 650 MILLIGRAM, QD (1 EVERY 1 DAY)
  408. ACETAMINOPHEN\CAFFEINE [Interacting]
     Active Substance: ACETAMINOPHEN\CAFFEINE
     Indication: Angina pectoris
     Dosage: 50 MILLIGRAM, QD (1 EVERY 1 DAY)
  409. ACETAMINOPHEN\CAFFEINE\DIHYDROCODEINE BITARTRATE [Interacting]
     Active Substance: ACETAMINOPHEN\CAFFEINE\DIHYDROCODEINE BITARTRATE
     Indication: Pain
     Dosage: 650 MILLIGRAM, QD (1 EVERY 1 DAYS)
  410. MAGNESIUM ALUMINUM SILICATE [Interacting]
     Active Substance: MAGNESIUM ALUMINUM SILICATE
     Indication: Constipation
     Dosage: 620 MILLIGRAM BID (1 EVERY 12 HOURS)
  411. AMBROXOL HYDROCHLORIDE\CLENBUTEROL [Interacting]
     Active Substance: AMBROXOL HYDROCHLORIDE\CLENBUTEROL
     Indication: Product used for unknown indication
  412. AMITRIPTYLINE HYDROCHLORIDE\DIAZEPAM [Interacting]
     Active Substance: AMITRIPTYLINE HYDROCHLORIDE\DIAZEPAM
     Indication: Insomnia
     Dosage: 75 MILLIGRAM, QD (1 EVERY 1 DAYS)
  413. AMITRIPTYLINE HYDROCHLORIDE\DIAZEPAM [Interacting]
     Active Substance: AMITRIPTYLINE HYDROCHLORIDE\DIAZEPAM
  414. AMITRIPTYLINE HYDROCHLORIDE\DIAZEPAM [Interacting]
     Active Substance: AMITRIPTYLINE HYDROCHLORIDE\DIAZEPAM
     Dosage: UNK UNK, QD (1 EVERY 1 DAYS)
  415. AMITRIPTYLINE HYDROCHLORIDE\DIAZEPAM [Interacting]
     Active Substance: AMITRIPTYLINE HYDROCHLORIDE\DIAZEPAM
     Dosage: 50 MILLIGRAM, QD (1 EVERY 1 DAYS)
  416. AMITRIPTYLINE PAMOATE\PERPHENAZINE [Interacting]
     Active Substance: AMITRIPTYLINE PAMOATE\PERPHENAZINE
     Indication: Insomnia
     Dosage: UNK, QD (1 EVERY 1 DAYS)
  417. AMLODIPINE\TELMISARTAN [Interacting]
     Active Substance: AMLODIPINE\TELMISARTAN
     Indication: Hypertension
     Dosage: 5 MILLIGRAM, QD (1 EVERY 1 DAYS)
  418. AMLODIPINE\TELMISARTAN [Interacting]
     Active Substance: AMLODIPINE\TELMISARTAN
     Indication: Coronary artery disease
  419. AMLODIPINE\TELMISARTAN [Interacting]
     Active Substance: AMLODIPINE\TELMISARTAN
     Indication: Constipation
  420. AMLODIPINE\TELMISARTAN [Interacting]
     Active Substance: AMLODIPINE\TELMISARTAN
     Indication: Angina pectoris
  421. AMLODIPINE\TELMISARTAN [Interacting]
     Active Substance: AMLODIPINE\TELMISARTAN
     Indication: Chest pain
  422. AMLODIPINE MESYLATE [Interacting]
     Active Substance: AMLODIPINE MESYLATE
     Indication: Hypertension
     Dosage: 5 MILLIGRAM, QD (1 EVERY 1 DAYS)
  423. AMLODIPINE MESYLATE [Interacting]
     Active Substance: AMLODIPINE MESYLATE
     Indication: Coronary artery disease
  424. AMLODIPINE MESYLATE [Interacting]
     Active Substance: AMLODIPINE MESYLATE
     Indication: Chest pain
  425. AMLODIPINE MESYLATE [Interacting]
     Active Substance: AMLODIPINE MESYLATE
     Indication: Angina pectoris
  426. AMITRIPTYLINE [Interacting]
     Active Substance: AMITRIPTYLINE
     Indication: Insomnia
     Dosage: 50 MILLIGRAM, QD (1 EVERY 1 DAYS)
  427. AMITRIPTYLINE [Interacting]
     Active Substance: AMITRIPTYLINE
     Dosage: 75 MILLIGRAM, QD (1 EVERY 1 DAYS)
  428. AMITRIPTYLINE [Interacting]
     Active Substance: AMITRIPTYLINE
  429. AMITRIPTYLINE [Interacting]
     Active Substance: AMITRIPTYLINE
  430. AMITRIPTYLINE [Interacting]
     Active Substance: AMITRIPTYLINE
     Dosage: 25 MILLIGRAM, QD (1 EVERY 1 DAYS)
  431. CARBAMAZEPINE [Interacting]
     Active Substance: CARBAMAZEPINE
     Indication: Seizure prophylaxis
     Dosage: 200 MILLIGRAM, BID (2 EVERY 1 DAYS)
  432. CARBAMAZEPINE [Interacting]
     Active Substance: CARBAMAZEPINE
     Indication: Prophylaxis
  433. CARBAMAZEPINE [Interacting]
     Active Substance: CARBAMAZEPINE
     Indication: Fibromyalgia
     Dosage: 400 MILLIGRAM, QD (1 EVERY 1 DAYS)
  434. CARBAMAZEPINE [Interacting]
     Active Substance: CARBAMAZEPINE
  435. CARBAMAZEPINE [Interacting]
     Active Substance: CARBAMAZEPINE
     Dosage: 5 MILLIGRAM, QID (1 EVERY 8 HOUR)
  436. CARBAMAZEPINE [Interacting]
     Active Substance: CARBAMAZEPINE
  437. CYCLOBENZAPRINE [Interacting]
     Active Substance: CYCLOBENZAPRINE
     Indication: Seizure prophylaxis
  438. CYCLOBENZAPRINE [Interacting]
     Active Substance: CYCLOBENZAPRINE
     Indication: Fibromyalgia
  439. CYCLOBENZAPRINE [Interacting]
     Active Substance: CYCLOBENZAPRINE
     Indication: Pain
  440. CYCLOBENZAPRINE [Interacting]
     Active Substance: CYCLOBENZAPRINE
  441. CYCLOBENZAPRINE [Interacting]
     Active Substance: CYCLOBENZAPRINE
     Dosage: 15 MILLIGRAM  (1 EVERY 8 HOURS)
  442. CYCLOBENZAPRINE [Interacting]
     Active Substance: CYCLOBENZAPRINE
  443. CYCLOBENZAPRINE [Interacting]
     Active Substance: CYCLOBENZAPRINE
     Dosage: 5 MILLIGRAM, QD (1 EVERY 1 DAYS)
  444. CYCLOBENZAPRINE [Interacting]
     Active Substance: CYCLOBENZAPRINE
     Dosage: 5 MILLIGRAM, QID (1 EVERY 8 HOURS)
  445. OXAZEPAM [Interacting]
     Active Substance: OXAZEPAM
     Indication: Insomnia
     Dosage: UNK, QD (1 EVERY 1 DAYS)
  446. OXAZEPAM [Interacting]
     Active Substance: OXAZEPAM
     Indication: Hypertension
     Dosage: 15 MILLIGRAM, QD ( 1 EVERY 1 DAYS)
  447. OXAZEPAM [Interacting]
     Active Substance: OXAZEPAM
     Indication: Coronary artery disease
  448. OXAZEPAM [Interacting]
     Active Substance: OXAZEPAM
     Indication: Duodenal ulcer
  449. OXAZEPAM [Interacting]
     Active Substance: OXAZEPAM
     Indication: Angina pectoris
     Dosage: 360 MILLIGRAM, QD (1 EVERY 1 DAYS)
  450. AMBROXOL\GUAIFENESIN\LEVALBUTEROL [Interacting]
     Active Substance: AMBROXOL\GUAIFENESIN\LEVALBUTEROL
     Indication: Product used for unknown indication
  451. ASPIRIN [Interacting]
     Active Substance: ASPIRIN
     Indication: Hypertension
  452. ASPIRIN [Interacting]
     Active Substance: ASPIRIN
     Indication: Coronary artery disease
  453. ASPIRIN [Interacting]
     Active Substance: ASPIRIN
     Indication: Angina pectoris
  454. CHONDROITIN SULFATE (BOVINE)\GLUCOSAMINE SULFATE [Interacting]
     Active Substance: CHONDROITIN SULFATE (BOVINE)\GLUCOSAMINE SULFATE
     Indication: Product used for unknown indication
  455. CHONDROITIN SULFATE (BOVINE)\GLUCOSAMINE SULFATE [Interacting]
     Active Substance: CHONDROITIN SULFATE (BOVINE)\GLUCOSAMINE SULFATE
     Indication: Pain
  456. CHONDROITIN SULFATE (BOVINE)\GLUCOSAMINE SULFATE [Interacting]
     Active Substance: CHONDROITIN SULFATE (BOVINE)\GLUCOSAMINE SULFATE
     Indication: Arthritis
  457. ANHYDROUS CITRIC ACID\MAGNESIUM OXIDE\SODIUM PICOSULFATE [Interacting]
     Active Substance: ANHYDROUS CITRIC ACID\MAGNESIUM OXIDE\SODIUM PICOSULFATE
     Indication: Constipation
     Dosage: 2 DOSAGE FORM, QD (1 EVERY 1 DAYS)
  458. ANHYDROUS CITRIC ACID\MAGNESIUM OXIDE\SODIUM PICOSULFATE [Interacting]
     Active Substance: ANHYDROUS CITRIC ACID\MAGNESIUM OXIDE\SODIUM PICOSULFATE
     Dosage: 2 DOSAGE FORM, QD (1 EVERY 1 DAYS)
  459. CYCLOBENZAPRINE [Interacting]
     Active Substance: CYCLOBENZAPRINE
     Indication: Pain
  460. CYCLOBENZAPRINE [Interacting]
     Active Substance: CYCLOBENZAPRINE
     Indication: Fibromyalgia
  461. CYCLOBENZAPRINE [Interacting]
     Active Substance: CYCLOBENZAPRINE
     Indication: Seizure prophylaxis
     Dosage: 5 MILLIGRAM, BID (2 EVERY 1 DAYS)
  462. CYCLOBENZAPRINE [Interacting]
     Active Substance: CYCLOBENZAPRINE
     Indication: Seizure
  463. CYCLOBENZAPRINE [Interacting]
     Active Substance: CYCLOBENZAPRINE
     Dosage: 2 MILLIGRAM, QD (1 EVERY 1 DAYS)
  464. CYCLOBENZAPRINE [Interacting]
     Active Substance: CYCLOBENZAPRINE
  465. CYCLOBENZAPRINE [Interacting]
     Active Substance: CYCLOBENZAPRINE
     Dosage: 15 MILLIGRAM, TID (3 EVERY 1 DAYS)
  466. CYCLOBENZAPRINE [Interacting]
     Active Substance: CYCLOBENZAPRINE
  467. CYCLOBENZAPRINE [Interacting]
     Active Substance: CYCLOBENZAPRINE
  468. CYCLOBENZAPRINE [Interacting]
     Active Substance: CYCLOBENZAPRINE
     Dosage: 45 MILLIGRAM, QD (1 EVERY 1 DAYS)
  469. CYCLOBENZAPRINE [Interacting]
     Active Substance: CYCLOBENZAPRINE
  470. CYCLOBENZAPRINE [Interacting]
     Active Substance: CYCLOBENZAPRINE
     Dosage: 0.25 MILLIGRAM, QD (1 EVERY 1 DAYS)
  471. CYCLOBENZAPRINE [Interacting]
     Active Substance: CYCLOBENZAPRINE
     Dosage: 0.33 MILLIGRAM, QD (1 EVERY 1 DAYS)
  472. DIAZEPAM [Interacting]
     Active Substance: DIAZEPAM
     Indication: Insomnia
     Dosage: 360 MILLIGRAM, QD (1 EVERY 1 DAY)
  473. DIAZEPAM [Interacting]
     Active Substance: DIAZEPAM
     Indication: Coronary artery disease
  474. DIAZEPAM [Interacting]
     Active Substance: DIAZEPAM
     Indication: Chest pain
     Dosage: 15 MILLIGRAM, QD ( 1 EVERY 1 DAYS)
  475. DIAZEPAM [Interacting]
     Active Substance: DIAZEPAM
     Indication: Angina unstable
     Dosage: 360 MILLIGRAM, QD ( 1 EVERY 1 DAYS)
  476. DIAZEPAM [Interacting]
     Active Substance: DIAZEPAM
     Indication: Angina pectoris
  477. DIAZEPAM [Interacting]
     Active Substance: DIAZEPAM
     Indication: Hypertension
  478. DIAZEPAM [Interacting]
     Active Substance: DIAZEPAM
     Dosage: 500 MILLIGRAM, QD (1 EVERY 1 DAY)
  479. DIAZEPAM [Interacting]
     Active Substance: DIAZEPAM
     Dosage: 115 MILLIGRAM, QD (1 EVERY 1 DAY)
  480. DIAZEPAM [Interacting]
     Active Substance: DIAZEPAM
     Dosage: 300 MILLIGRAM, QD (1 EVERY 1 DAY)
  481. OXAZEPAM [Interacting]
     Active Substance: OXAZEPAM
     Indication: Insomnia
     Dosage: 360 MILLIGRAM, QD (1 EVERY 1 DAY)
  482. OXAZEPAM [Interacting]
     Active Substance: OXAZEPAM
     Indication: Hypertension
  483. OXAZEPAM [Interacting]
     Active Substance: OXAZEPAM
     Indication: Coronary artery disease
  484. DIAZEPAM [Interacting]
     Active Substance: DIAZEPAM
     Indication: Insomnia
     Dosage: 36 MILLIGRAM, QD (ROA: INTRAVENOUS)
  485. DIAZEPAM [Interacting]
     Active Substance: DIAZEPAM
     Indication: Coronary artery disease
  486. DIAZEPAM [Interacting]
     Active Substance: DIAZEPAM
     Indication: Chest pain
  487. DIAZEPAM [Interacting]
     Active Substance: DIAZEPAM
     Indication: Angina unstable
  488. DIAZEPAM [Interacting]
     Active Substance: DIAZEPAM
     Indication: Angina pectoris
  489. DOCUSATE SODIUM [Interacting]
     Active Substance: DOCUSATE SODIUM
     Indication: Constipation
  490. DOCUSATE SODIUM\PHENOLPHTHALEIN [Interacting]
     Active Substance: DOCUSATE SODIUM\PHENOLPHTHALEIN
     Indication: Pain
  491. DROTAVERINE [Interacting]
     Active Substance: DROTAVERINE
     Indication: Product used for unknown indication
  492. DULCOLAX (BISACODYL) [Interacting]
     Active Substance: BISACODYL
     Indication: Constipation
     Dosage: 2 DOSAGE FORM, QD (1 EVERY 1 DAYS)
  493. DULCOLAX (BISACODYL) [Interacting]
     Active Substance: BISACODYL
  494. DULCOLAX (BISACODYL) [Interacting]
     Active Substance: BISACODYL
  495. DULCOLAX (BISACODYL) [Interacting]
     Active Substance: BISACODYL
     Dosage: 650 MILLIGRAM, QD (1 EVERY 1 DAY)
  496. DULCOLAX (BISACODYL) [Interacting]
     Active Substance: BISACODYL
  497. DULCOLAX (BISACODYL) [Interacting]
     Active Substance: BISACODYL
     Dosage: 1 DOSAGE FORM, QD (1 EVERY 1 DAYS)
  498. ERGOCALCIFEROL [Interacting]
     Active Substance: ERGOCALCIFEROL
     Indication: Product used for unknown indication
  499. FRUCTOSE\GLYCERIN\SODIUM CHLORIDE [Interacting]
     Active Substance: FRUCTOSE\GLYCERIN\SODIUM CHLORIDE
     Indication: Product used for unknown indication
  500. AMINOPHYLLINE [Interacting]
     Active Substance: AMINOPHYLLINE
     Indication: Coronary artery disease
  501. AMINOPHYLLINE [Interacting]
     Active Substance: AMINOPHYLLINE
     Indication: Angina pectoris
     Dosage: 6 MILLIGRAM, QD (1 EVERY 1 DAY)
  502. AMINOPHYLLINE [Interacting]
     Active Substance: AMINOPHYLLINE
     Indication: Chest pain
  503. NITROGLYCERIN [Interacting]
     Active Substance: NITROGLYCERIN
     Indication: Hypertension
  504. NITROGLYCERIN [Interacting]
     Active Substance: NITROGLYCERIN
     Indication: Coronary artery disease
  505. NITROGLYCERIN [Interacting]
     Active Substance: NITROGLYCERIN
     Indication: Chest pain
     Dosage: 1 DOSAGE FORM, QD (1 EVERY 1 DAYS)
  506. NITROGLYCERIN [Interacting]
     Active Substance: NITROGLYCERIN
     Indication: Angina pectoris
     Dosage: 0.4 DOSAGE FORM, QD (1 EVERY 1 DAYS)
  507. NITROGLYCERIN [Interacting]
     Active Substance: NITROGLYCERIN
     Dosage: 20 DOSAGE FORM, QD (1 EVERY 1 DAYS)
  508. NITROGLYCERIN [Interacting]
     Active Substance: NITROGLYCERIN
     Dosage: 0.6 DOSAGE FORM, QD (1 EVERY 1 DAYS)
  509. NITROGLYCERIN [Interacting]
     Active Substance: NITROGLYCERIN
     Dosage: 1 DOSAGE FORM, QD (1 EVERY 1 DAYS)
  510. NITROGLYCERIN [Interacting]
     Active Substance: NITROGLYCERIN
  511. NITROGLYCERIN [Interacting]
     Active Substance: NITROGLYCERIN
     Dosage: 6 DOSAGE FORM, QD (1 EVERY 1 DAYS)
  512. NITROGLYCERIN [Interacting]
     Active Substance: NITROGLYCERIN
     Dosage: 4 DOSAGE FORM, QD (1 EVERY 1 DAYS)
  513. NITROGLYCERIN [Interacting]
     Active Substance: NITROGLYCERIN
  514. NITROGLYCERIN [Interacting]
     Active Substance: NITROGLYCERIN
     Dosage: 0.4 MILLIGRAM, QD (1 EVERY 1 DAYS)
  515. NITROGLYCERIN [Interacting]
     Active Substance: NITROGLYCERIN
     Dosage: 0.6 MILLIGRAM, QD (1 EVERY 1 DAYS)
  516. NITROGLYCERIN [Interacting]
     Active Substance: NITROGLYCERIN
     Dosage: UNK, QD
  517. NITROGLYCERIN [Interacting]
     Active Substance: NITROGLYCERIN
  518. NITROGLYCERIN [Interacting]
     Active Substance: NITROGLYCERIN
     Dosage: 0.6 DOSAGE FORM, QH (1 EVERY 1 HOUR)
  519. NITROGLYCERIN [Interacting]
     Active Substance: NITROGLYCERIN
     Dosage: 40 MILLIGRAM, QD (1 EVERY 1 DAYS)
  520. NITROGLYCERIN [Interacting]
     Active Substance: NITROGLYCERIN
  521. NITROGLYCERIN [Interacting]
     Active Substance: NITROGLYCERIN
     Dosage: 1 DOSAGE FORM, QD (1 EVERY 1 DAYS)
  522. HYDROCHLOROTHIAZIDE\QUINAPRIL HYDROCHLORIDE [Interacting]
     Active Substance: HYDROCHLOROTHIAZIDE\QUINAPRIL HYDROCHLORIDE
     Indication: Hypertension
     Dosage: 20 MILLIGRAM, QD (1 EVERY 1 DAYS)
  523. HYDROCHLOROTHIAZIDE\QUINAPRIL HYDROCHLORIDE [Interacting]
     Active Substance: HYDROCHLOROTHIAZIDE\QUINAPRIL HYDROCHLORIDE
     Indication: Coronary artery dilatation
  524. HYDROCHLOROTHIAZIDE\QUINAPRIL HYDROCHLORIDE [Interacting]
     Active Substance: HYDROCHLOROTHIAZIDE\QUINAPRIL HYDROCHLORIDE
     Indication: Chest pain
     Dosage: 40 MILLIGRAM, QD (1 EVERY 1 DAYS)
  525. HYDROCHLOROTHIAZIDE\QUINAPRIL HYDROCHLORIDE [Interacting]
     Active Substance: HYDROCHLOROTHIAZIDE\QUINAPRIL HYDROCHLORIDE
     Indication: Angina pectoris
  526. HYDROCHLOROTHIAZIDE\QUINAPRIL HYDROCHLORIDE [Interacting]
     Active Substance: HYDROCHLOROTHIAZIDE\QUINAPRIL HYDROCHLORIDE
     Indication: Coronary artery disease
  527. MORPHINE SULFATE [Interacting]
     Active Substance: MORPHINE SULFATE
     Indication: Pain
     Dosage: 10 MILLIGRAM, QD (1 EVERY 1 DAYS)
  528. MORPHINE SULFATE [Interacting]
     Active Substance: MORPHINE SULFATE
     Indication: Fibromyalgia
     Dosage: 100 MILLIGRAM, QD (1 EVERY 1 DAYS)
  529. MORPHINE SULFATE [Interacting]
     Active Substance: MORPHINE SULFATE
     Indication: Chest pain
     Dosage: 2 DOSAGE FORM, QD (1 EVERY 1 DAYS)
  530. MORPHINE SULFATE [Interacting]
     Active Substance: MORPHINE SULFATE
     Indication: Dyspnoea
     Dosage: 1 DOSAGE FORM, QD (1 EVERY 1 DAYS)
  531. MORPHINE SULFATE [Interacting]
     Active Substance: MORPHINE SULFATE
  532. MORPHINE SULFATE [Interacting]
     Active Substance: MORPHINE SULFATE
     Dosage: 20 MILLIGRAM, QD (1 EVERY 1 DAYS)
  533. OXCARBAZEPINE [Interacting]
     Active Substance: OXCARBAZEPINE
     Indication: Product used for unknown indication
  534. PHENYLEPHRINE HYDROCHLORIDE [Interacting]
     Active Substance: PHENYLEPHRINE HYDROCHLORIDE
     Indication: Pain
  535. PHENYLEPHRINE HYDROCHLORIDE [Interacting]
     Active Substance: PHENYLEPHRINE HYDROCHLORIDE
     Indication: Cerebrovascular accident
  536. ASPIRIN [Interacting]
     Active Substance: ASPIRIN
     Indication: Hypertension
  537. ASPIRIN [Interacting]
     Active Substance: ASPIRIN
     Indication: Coronary artery disease
  538. ASPIRIN [Interacting]
     Active Substance: ASPIRIN
     Indication: Angina pectoris
  539. DILTIAZEM HYDROCHLORIDE [Interacting]
     Active Substance: DILTIAZEM HYDROCHLORIDE
     Indication: Hypertension
     Dosage: 36 MILLIGRAM, QD (1 EVERY 1 DAYS)
  540. DILTIAZEM HYDROCHLORIDE [Interacting]
     Active Substance: DILTIAZEM HYDROCHLORIDE
     Indication: Coronary artery disease
     Dosage: 360 MILLIGRAM, QD (1 EVERY 1 DAYS)
  541. DILTIAZEM HYDROCHLORIDE [Interacting]
     Active Substance: DILTIAZEM HYDROCHLORIDE
     Indication: Chest pain
  542. DILTIAZEM HYDROCHLORIDE [Interacting]
     Active Substance: DILTIAZEM HYDROCHLORIDE
     Indication: Angina pectoris
  543. DILTIAZEM HYDROCHLORIDE [Interacting]
     Active Substance: DILTIAZEM HYDROCHLORIDE
     Dosage: 360 MILLIGRAM, QD (1 EVERY 1 DAYS)
  544. DILTIAZEM HYDROCHLORIDE [Interacting]
     Active Substance: DILTIAZEM HYDROCHLORIDE
     Dosage: 36 MILLIGRAM, QD (1 EVERY 1 DAYS)
  545. DILTIAZEM HYDROCHLORIDE [Interacting]
     Active Substance: DILTIAZEM HYDROCHLORIDE
  546. DILTIAZEM HYDROCHLORIDE [Interacting]
     Active Substance: DILTIAZEM HYDROCHLORIDE
     Dosage: 40 MILLIGRAM, QD (1 EVERY 1 DAYS)
  547. DILTIAZEM HYDROCHLORIDE [Interacting]
     Active Substance: DILTIAZEM HYDROCHLORIDE
     Dosage: 500 MILLIGRAM, QD (1 EVERY 1 DAYS)
  548. DILTIAZEM HYDROCHLORIDE [Interacting]
     Active Substance: DILTIAZEM HYDROCHLORIDE
     Dosage: 300 MILLIGRAM, QD (1 EVERY 1 DAYS)
  549. DILTIAZEM HYDROCHLORIDE [Interacting]
     Active Substance: DILTIAZEM HYDROCHLORIDE
     Dosage: 1 DOSAGE FORM, QD (1 EVERY 1 DAYS)
  550. DILTIAZEM HYDROCHLORIDE [Interacting]
     Active Substance: DILTIAZEM HYDROCHLORIDE
     Dosage: 30 MILLIGRAM, QD (1 EVERY 1 DAYS)
  551. DILTIAZEM HYDROCHLORIDE [Interacting]
     Active Substance: DILTIAZEM HYDROCHLORIDE
     Dosage: 15 MILLIGRAM, QD (1 EVERY 1 DAYS)
  552. POLYSORBATE 20 [Interacting]
     Active Substance: POLYSORBATE 20
     Indication: Insomnia
  553. POLYSORBATE 40 [Interacting]
     Active Substance: POLYSORBATE 40
     Indication: Insomnia
  554. POLYSORBATE 80 [Interacting]
     Active Substance: POLYSORBATE 80
     Indication: Insomnia
  555. POLYSORBATE 85 [Interacting]
     Active Substance: POLYSORBATE 85
     Indication: Insomnia
  556. QUININE [Interacting]
     Active Substance: QUININE
     Indication: Pain
  557. GALANTAMINE HYDROBROMIDE [Suspect]
     Active Substance: GALANTAMINE HYDROBROMIDE
     Indication: Dementia
     Dosage: 16 MILLIGRAM, QD (1 EVERY 1 DAY)
  558. SALICYLAMIDE [Interacting]
     Active Substance: SALICYLAMIDE
     Indication: Pain
  559. GLYCERIN [Interacting]
     Active Substance: GLYCERIN
     Indication: Product used for unknown indication
  560. AMITRIPTYLINE HYDROCHLORIDE\PERPHENAZINE [Interacting]
     Active Substance: AMITRIPTYLINE HYDROCHLORIDE\PERPHENAZINE
     Indication: Insomnia
     Dosage: 75 MILLIGRAM, QD (1 EVERY 1 DAYS)
  561. AMITRIPTYLINE HYDROCHLORIDE\PERPHENAZINE [Interacting]
     Active Substance: AMITRIPTYLINE HYDROCHLORIDE\PERPHENAZINE
     Indication: Hypertension
     Dosage: 50 MILLIGRAM, QD (1 EVERY 1 DAYS)
  562. AMITRIPTYLINE HYDROCHLORIDE\PERPHENAZINE [Interacting]
     Active Substance: AMITRIPTYLINE HYDROCHLORIDE\PERPHENAZINE
     Indication: Fibromyalgia
  563. AMITRIPTYLINE HYDROCHLORIDE\PERPHENAZINE [Interacting]
     Active Substance: AMITRIPTYLINE HYDROCHLORIDE\PERPHENAZINE
     Indication: Duodenal ulcer
  564. AMITRIPTYLINE HYDROCHLORIDE\PERPHENAZINE [Interacting]
     Active Substance: AMITRIPTYLINE HYDROCHLORIDE\PERPHENAZINE
     Indication: Dementia
  565. AMITRIPTYLINE HYDROCHLORIDE\PERPHENAZINE [Interacting]
     Active Substance: AMITRIPTYLINE HYDROCHLORIDE\PERPHENAZINE
     Indication: Coronary artery disease
  566. AMITRIPTYLINE HYDROCHLORIDE\PERPHENAZINE [Interacting]
     Active Substance: AMITRIPTYLINE HYDROCHLORIDE\PERPHENAZINE
     Indication: Constipation
  567. AMITRIPTYLINE HYDROCHLORIDE\PERPHENAZINE [Interacting]
     Active Substance: AMITRIPTYLINE HYDROCHLORIDE\PERPHENAZINE
     Indication: Chest pain
  568. AMITRIPTYLINE HYDROCHLORIDE\PERPHENAZINE [Interacting]
     Active Substance: AMITRIPTYLINE HYDROCHLORIDE\PERPHENAZINE
     Indication: Arthritis
  569. AMITRIPTYLINE HYDROCHLORIDE\PERPHENAZINE [Interacting]
     Active Substance: AMITRIPTYLINE HYDROCHLORIDE\PERPHENAZINE
     Indication: Angina pectoris
  570. DILTIAZEM [Interacting]
     Active Substance: DILTIAZEM
     Indication: Hypertension
     Dosage: 360 MILLIGRAM, QD (1 EVERY 1 DAYS)
  571. DILTIAZEM [Interacting]
     Active Substance: DILTIAZEM
     Indication: Coronary artery disease
     Dosage: 360 MILLIGRAM, QD (1 EVERY 1 DAYS)
  572. DILTIAZEM [Interacting]
     Active Substance: DILTIAZEM
     Indication: Angina pectoris
  573. DILTIAZEM [Interacting]
     Active Substance: DILTIAZEM
     Indication: Chest pain
     Dosage: 36 MILLIGRAM, QD (1 EVERY 1 DAYS)
  574. DILTIAZEM [Interacting]
     Active Substance: DILTIAZEM
     Indication: Angina unstable
     Dosage: 15 MILLIGRAM, QD (1 EVERY 1 DAYS)
  575. DILTIAZEM [Interacting]
     Active Substance: DILTIAZEM
     Dosage: 36 MILLIGRAM, QD (1 EVERY 1 DAYS)
  576. DILTIAZEM [Interacting]
     Active Substance: DILTIAZEM
  577. DILTIAZEM [Interacting]
     Active Substance: DILTIAZEM
  578. DILTIAZEM [Interacting]
     Active Substance: DILTIAZEM
     Dosage: 500 MILLIGRAM, QD (1 EVERY 1 DAYS)
  579. DILTIAZEM [Interacting]
     Active Substance: DILTIAZEM
     Dosage: 115 MILLIGRAM, QD (1 EVERY 1 DAYS)
  580. DILTIAZEM [Interacting]
     Active Substance: DILTIAZEM
     Dosage: 300 MILLIGRAM, QD (1 EVERY 1 DAYS)
  581. CARBAMAZEPINE [Interacting]
     Active Substance: CARBAMAZEPINE
     Indication: Seizure
  582. CARBAMAZEPINE [Interacting]
     Active Substance: CARBAMAZEPINE
     Indication: Fibromyalgia
  583. CARBAMAZEPINE [Interacting]
     Active Substance: CARBAMAZEPINE
     Indication: Seizure prophylaxis
  584. CARBAMAZEPINE [Interacting]
     Active Substance: CARBAMAZEPINE
     Dosage: 500 MILLIGRAM, QD (1 EVERY 1 DAYS)
  585. CARBAMAZEPINE [Interacting]
     Active Substance: CARBAMAZEPINE
     Dosage: 100 MILLIGRAM, QD (1 EVERY 1 DAYS)
  586. CARBAMAZEPINE [Interacting]
     Active Substance: CARBAMAZEPINE
     Dosage: 200 MILLIGRAM, QD (1 EVERY 1 DAYS)
  587. CARBAMAZEPINE [Interacting]
     Active Substance: CARBAMAZEPINE
  588. DILTIAZEM HYDROCHLORIDE [Suspect]
     Active Substance: DILTIAZEM HYDROCHLORIDE
     Indication: Hypertension
     Dosage: 360 MILLIGRAM, QD (1 EVERY 1 DAYS, LIQUID INTRAVENOUS)
  589. DILTIAZEM HYDROCHLORIDE [Suspect]
     Active Substance: DILTIAZEM HYDROCHLORIDE
     Indication: Coronary artery disease
     Dosage: 360 MILLIGRAM, QD (1 EVERY 1 DAYS)
  590. DILTIAZEM HYDROCHLORIDE [Suspect]
     Active Substance: DILTIAZEM HYDROCHLORIDE
     Indication: Chest pain
     Dosage: 36 MILLIGRAM, QD (1 EVERY 1 DAYS)
  591. DILTIAZEM HYDROCHLORIDE [Suspect]
     Active Substance: DILTIAZEM HYDROCHLORIDE
     Indication: Angina pectoris
     Dosage: 15 MILLIGRAM, QD (1 EVERY 1 DAYS)
  592. DILTIAZEM HYDROCHLORIDE [Suspect]
     Active Substance: DILTIAZEM HYDROCHLORIDE
     Indication: Chronic obstructive pulmonary disease
     Dosage: 40 MILLIGRAM, QD (1 EVERY 1 DAYS)
  593. DILTIAZEM HYDROCHLORIDE [Suspect]
     Active Substance: DILTIAZEM HYDROCHLORIDE
     Dosage: 500 MILLIGRAM, QD (1 EVERY 1 DAYS)
  594. DILTIAZEM HYDROCHLORIDE [Suspect]
     Active Substance: DILTIAZEM HYDROCHLORIDE
  595. ALBUTEROL [Suspect]
     Active Substance: ALBUTEROL
     Indication: Hypertension
  596. ALBUTEROL [Suspect]
     Active Substance: ALBUTEROL
     Indication: Chronic obstructive pulmonary disease
  597. ALBUTEROL [Suspect]
     Active Substance: ALBUTEROL
     Indication: Chest pain
     Dosage: 800 MILLIGRAM, QD (1 EVERY 1 DAYS)
  598. ALBUTEROL [Suspect]
     Active Substance: ALBUTEROL
     Indication: Angina pectoris
     Dosage: 400 MILLIGRAM, QD (1 EVERY 1 DAY)
  599. ALBUTEROL [Suspect]
     Active Substance: ALBUTEROL
     Indication: Coronary artery disease
     Dosage: 100 MILLIGRAM, QD (1 EVERY 1 DAY)
  600. ALBUTEROL [Suspect]
     Active Substance: ALBUTEROL
  601. ALBUTEROL [Suspect]
     Active Substance: ALBUTEROL
  602. ALBUTEROL [Suspect]
     Active Substance: ALBUTEROL
     Dosage: 400 MILLIGRAM, QID (1 EVERY 6 HOURS)
  603. ALBUTEROL [Suspect]
     Active Substance: ALBUTEROL
     Dosage: 2000 MICROGRAM, QID (1 EVERY 6 HOURS)
  604. ALBUTEROL [Suspect]
     Active Substance: ALBUTEROL
     Dosage: 200 MILLIGRAM, TID (1 EVERY 8 HOURS)
  605. ALBUTEROL [Suspect]
     Active Substance: ALBUTEROL
     Dosage: 200 MICROGRAM, QID (1 EVERY 6 HOURS)
  606. ALBUTEROL [Suspect]
     Active Substance: ALBUTEROL
     Dosage: 100 MICROGRAM, QID (1 EVERY 6 HOURS)
  607. ALBUTEROL [Suspect]
     Active Substance: ALBUTEROL
     Dosage: 200 MILLIGRAM, QID (1 EVERY 6 HOURS)
  608. ALBUTEROL [Suspect]
     Active Substance: ALBUTEROL
     Dosage: UNK, QID (1 EVERY 6 HOURS)
  609. ALBUTEROL [Suspect]
     Active Substance: ALBUTEROL
     Dosage: 200 MICROGRAM, BID (2 EVERY 1 DAY)
  610. ALBUTEROL [Suspect]
     Active Substance: ALBUTEROL
     Dosage: 400 MICROGRAM, QD (1 EVERY 1 DAY)
  611. ALBUTEROL [Suspect]
     Active Substance: ALBUTEROL
     Dosage: 800 MICROGRAM, QD (1 EVERY 1 DAY)
  612. ALBUTEROL [Suspect]
     Active Substance: ALBUTEROL
     Dosage: 100 MICROGRAM, QD (1 EVERY 1 DAY)
  613. ALBUTEROL [Suspect]
     Active Substance: ALBUTEROL
  614. ALBUTEROL [Suspect]
     Active Substance: ALBUTEROL
     Dosage: 100 MILLIGRAM, QID (1 EVERY 6 HOURS)
  615. ALBUTEROL [Suspect]
     Active Substance: ALBUTEROL
     Dosage: 200 MICROGRAM, QID (4 EVERY 1 DAY)
  616. CARBAMAZEPINE [Interacting]
     Active Substance: CARBAMAZEPINE
     Indication: Seizure prophylaxis
  617. CARBAMAZEPINE [Interacting]
     Active Substance: CARBAMAZEPINE
     Indication: Prophylaxis
     Dosage: 15 MILLIGRAM, TID (3 EVERY 1 DAY)
  618. CARBAMAZEPINE [Interacting]
     Active Substance: CARBAMAZEPINE
     Indication: Fibromyalgia
  619. CARBAMAZEPINE [Interacting]
     Active Substance: CARBAMAZEPINE
  620. CARBAMAZEPINE [Interacting]
     Active Substance: CARBAMAZEPINE
     Dosage: 5 MILLIGRAM, TID (3 EVERY 1 DAY)
  621. CYCLOBENZAPRINE HYDROCHLORIDE [Suspect]
     Active Substance: CYCLOBENZAPRINE HYDROCHLORIDE
     Indication: Seizure prophylaxis
     Dosage: 15 MILLIGRAM, TID (3 EVERY 1 DAY)
  622. CYCLOBENZAPRINE HYDROCHLORIDE [Suspect]
     Active Substance: CYCLOBENZAPRINE HYDROCHLORIDE
     Indication: Seizure
     Dosage: 1.87 MILLIGRAM, QD (1 EVER 1 DAY)
  623. CYCLOBENZAPRINE HYDROCHLORIDE [Suspect]
     Active Substance: CYCLOBENZAPRINE HYDROCHLORIDE
     Indication: Pain
     Dosage: 500 MILLIGRAM, TID (3 EVERY 1 DAY)
  624. CYCLOBENZAPRINE HYDROCHLORIDE [Suspect]
     Active Substance: CYCLOBENZAPRINE HYDROCHLORIDE
     Indication: Fibromyalgia
  625. CYCLOBENZAPRINE HYDROCHLORIDE [Suspect]
     Active Substance: CYCLOBENZAPRINE HYDROCHLORIDE
  626. CYCLOBENZAPRINE HYDROCHLORIDE [Suspect]
     Active Substance: CYCLOBENZAPRINE HYDROCHLORIDE
     Dosage: 45 MILLIGRAM, QD
  627. CYCLOBENZAPRINE HYDROCHLORIDE [Suspect]
     Active Substance: CYCLOBENZAPRINE HYDROCHLORIDE
  628. CYCLOBENZAPRINE HYDROCHLORIDE [Suspect]
     Active Substance: CYCLOBENZAPRINE HYDROCHLORIDE
  629. CYCLOBENZAPRINE HYDROCHLORIDE [Suspect]
     Active Substance: CYCLOBENZAPRINE HYDROCHLORIDE
     Dosage: 100 MILLIGRAM, QD (1 EVERY 1 DAY)
  630. CYCLOBENZAPRINE HYDROCHLORIDE [Suspect]
     Active Substance: CYCLOBENZAPRINE HYDROCHLORIDE
  631. CYCLOBENZAPRINE HYDROCHLORIDE [Suspect]
     Active Substance: CYCLOBENZAPRINE HYDROCHLORIDE
     Dosage: 5.61 MILLIGRAM, QD (1 EVERY 1 DAY)
  632. CYCLOBENZAPRINE HYDROCHLORIDE [Suspect]
     Active Substance: CYCLOBENZAPRINE HYDROCHLORIDE
  633. CYCLOBENZAPRINE HYDROCHLORIDE [Suspect]
     Active Substance: CYCLOBENZAPRINE HYDROCHLORIDE
  634. CYCLOBENZAPRINE HYDROCHLORIDE [Suspect]
     Active Substance: CYCLOBENZAPRINE HYDROCHLORIDE
     Dosage: 15 MILLIGRAM, QD (1 EVERY 1 DAYS)
  635. CYCLOBENZAPRINE HYDROCHLORIDE [Suspect]
     Active Substance: CYCLOBENZAPRINE HYDROCHLORIDE
  636. CYCLOBENZAPRINE HYDROCHLORIDE [Suspect]
     Active Substance: CYCLOBENZAPRINE HYDROCHLORIDE
     Dosage: 2 MILLIGRAM, QD (1 EVERY 1 DAY)
  637. CYCLOBENZAPRINE HYDROCHLORIDE [Suspect]
     Active Substance: CYCLOBENZAPRINE HYDROCHLORIDE
  638. CYCLOBENZAPRINE HYDROCHLORIDE [Suspect]
     Active Substance: CYCLOBENZAPRINE HYDROCHLORIDE
     Dosage: 5 MILLIGRAM, BID (2 EVERY 1 DAYS)
  639. CYCLOBENZAPRINE HYDROCHLORIDE [Suspect]
     Active Substance: CYCLOBENZAPRINE HYDROCHLORIDE
     Dosage: 200 MILLIGRAM, BID (1 EVERY 12 HOURS)
  640. CYCLOBENZAPRINE HYDROCHLORIDE [Suspect]
     Active Substance: CYCLOBENZAPRINE HYDROCHLORIDE
     Dosage: 5 MILLIGRAM, QID (1 EVERY 8 HOURS)
  641. CYCLOBENZAPRINE HYDROCHLORIDE [Suspect]
     Active Substance: CYCLOBENZAPRINE HYDROCHLORIDE
     Dosage: 100 MILLIGRAM, BID (1 EVERY 12 HOURS)
  642. CYCLOBENZAPRINE HYDROCHLORIDE [Suspect]
     Active Substance: CYCLOBENZAPRINE HYDROCHLORIDE
     Dosage: 5 MILLIGRAM, QD (1 EVERY 1 DAYS)
  643. CYCLOBENZAPRINE HYDROCHLORIDE [Suspect]
     Active Substance: CYCLOBENZAPRINE HYDROCHLORIDE
     Dosage: 10 MILLIGRAM, QD (1 EVERY 1 DAYS)
  644. CYCLOBENZAPRINE HYDROCHLORIDE [Suspect]
     Active Substance: CYCLOBENZAPRINE HYDROCHLORIDE
     Dosage: 500 MILLIGRAM, QID (1 EVERY 8 HOURS)
  645. AMITRIPTYLINE HYDROCHLORIDE [Interacting]
     Active Substance: AMITRIPTYLINE HYDROCHLORIDE
     Indication: Thyroid disorder
  646. AMITRIPTYLINE HYDROCHLORIDE [Interacting]
     Active Substance: AMITRIPTYLINE HYDROCHLORIDE
     Indication: Radioactive iodine therapy
     Dosage: 25 MILLIGRAM, QD
  647. AMITRIPTYLINE HYDROCHLORIDE [Interacting]
     Active Substance: AMITRIPTYLINE HYDROCHLORIDE
     Indication: Prophylaxis
  648. AMITRIPTYLINE HYDROCHLORIDE [Interacting]
     Active Substance: AMITRIPTYLINE HYDROCHLORIDE
     Indication: Pain
     Dosage: 5 MILLIGRAM, QD (1 EVERY ONE DAY)
  649. AMITRIPTYLINE HYDROCHLORIDE [Interacting]
     Active Substance: AMITRIPTYLINE HYDROCHLORIDE
     Indication: Oedema
  650. AMITRIPTYLINE HYDROCHLORIDE [Interacting]
     Active Substance: AMITRIPTYLINE HYDROCHLORIDE
     Indication: Insomnia
  651. AMITRIPTYLINE HYDROCHLORIDE [Interacting]
     Active Substance: AMITRIPTYLINE HYDROCHLORIDE
     Indication: Hypertension
     Dosage: 75 MILLIGRAM, QD (1 EVERY 1 DAY)
  652. AMITRIPTYLINE HYDROCHLORIDE [Interacting]
     Active Substance: AMITRIPTYLINE HYDROCHLORIDE
     Indication: Fibromyalgia
     Dosage: 50 MILLIGRAM, QD (1 EVERY 1 DAY)
  653. AMITRIPTYLINE HYDROCHLORIDE [Interacting]
     Active Substance: AMITRIPTYLINE HYDROCHLORIDE
     Indication: Duodenal ulcer
  654. AMITRIPTYLINE HYDROCHLORIDE [Interacting]
     Active Substance: AMITRIPTYLINE HYDROCHLORIDE
     Indication: Dementia
     Dosage: 75 MILLIGRAM, QD (1 EVERY 1 DAY)
  655. AMITRIPTYLINE HYDROCHLORIDE [Interacting]
     Active Substance: AMITRIPTYLINE HYDROCHLORIDE
     Indication: Coronary artery disease
     Dosage: 50 MILLIGRAM, QD (1 EVERY 1 DAY)
  656. AMITRIPTYLINE HYDROCHLORIDE [Interacting]
     Active Substance: AMITRIPTYLINE HYDROCHLORIDE
     Indication: Constipation
  657. AMITRIPTYLINE HYDROCHLORIDE [Interacting]
     Active Substance: AMITRIPTYLINE HYDROCHLORIDE
     Indication: Chest pain
  658. AMITRIPTYLINE HYDROCHLORIDE [Interacting]
     Active Substance: AMITRIPTYLINE HYDROCHLORIDE
     Indication: Arthritis
     Dosage: 5 MILLIGRAM, QD (1 EVERY 1 DAYS)
  659. AMITRIPTYLINE HYDROCHLORIDE [Interacting]
     Active Substance: AMITRIPTYLINE HYDROCHLORIDE
     Indication: Angina pectoris
  660. AMITRIPTYLINE HYDROCHLORIDE [Interacting]
     Active Substance: AMITRIPTYLINE HYDROCHLORIDE
     Indication: Small intestine carcinoma
  661. AMITRIPTYLINE HYDROCHLORIDE [Interacting]
     Active Substance: AMITRIPTYLINE HYDROCHLORIDE
  662. AMITRIPTYLINE HYDROCHLORIDE [Interacting]
     Active Substance: AMITRIPTYLINE HYDROCHLORIDE
     Dosage: 25 MILLIGRAM, QD (1 EVERY 1 DAYS)
  663. AMITRIPTYLINE HYDROCHLORIDE [Interacting]
     Active Substance: AMITRIPTYLINE HYDROCHLORIDE
  664. AMITRIPTYLINE HYDROCHLORIDE [Interacting]
     Active Substance: AMITRIPTYLINE HYDROCHLORIDE
     Dosage: 750 MILLIGRAM, QD (1 EVERY 1 DAY)
  665. AMITRIPTYLINE HYDROCHLORIDE [Interacting]
     Active Substance: AMITRIPTYLINE HYDROCHLORIDE
  666. AMITRIPTYLINE HYDROCHLORIDE [Interacting]
     Active Substance: AMITRIPTYLINE HYDROCHLORIDE
  667. AMITRIPTYLINE HYDROCHLORIDE [Interacting]
     Active Substance: AMITRIPTYLINE HYDROCHLORIDE
  668. AMITRIPTYLINE HYDROCHLORIDE [Interacting]
     Active Substance: AMITRIPTYLINE HYDROCHLORIDE
     Dosage: 500 MILLIGRAM, QD (1 EVERY 1 DAY)
  669. AMITRIPTYLINE HYDROCHLORIDE [Interacting]
     Active Substance: AMITRIPTYLINE HYDROCHLORIDE
  670. AMITRIPTYLINE HYDROCHLORIDE [Interacting]
     Active Substance: AMITRIPTYLINE HYDROCHLORIDE
  671. DIPYRIDAMOLE [Interacting]
     Active Substance: DIPYRIDAMOLE
     Indication: Cerebrovascular accident
  672. DIPYRIDAMOLE [Interacting]
     Active Substance: DIPYRIDAMOLE
     Dosage: 2 DOSAGE FORM, QD (1 EVERY 1 DAYS)
  673. DIPYRIDAMOLE [Interacting]
     Active Substance: DIPYRIDAMOLE
  674. DIPYRIDAMOLE [Interacting]
     Active Substance: DIPYRIDAMOLE
  675. DIPYRIDAMOLE [Interacting]
     Active Substance: DIPYRIDAMOLE
     Dosage: 1 DOSAGE FORM, BID (2 EVERY 1 DAY)
  676. DIPYRIDAMOLE [Interacting]
     Active Substance: DIPYRIDAMOLE
  677. DIPYRIDAMOLE [Interacting]
     Active Substance: DIPYRIDAMOLE
     Dosage: 2 DOSAGE FORM, BID (1 EVERY 12 HOURS)
  678. DIPYRIDAMOLE [Interacting]
     Active Substance: DIPYRIDAMOLE
  679. DIPYRIDAMOLE [Interacting]
     Active Substance: DIPYRIDAMOLE
     Dosage: 400 MILLIGRAM, QD (1 EVERY 1 DAYS)
  680. DIPYRIDAMOLE [Interacting]
     Active Substance: DIPYRIDAMOLE
  681. DIPYRIDAMOLE [Interacting]
     Active Substance: DIPYRIDAMOLE
     Dosage: 360 MILLIGRAM, QD (1 EVERY 1 DAYS)
  682. FUROSEMIDE [Suspect]
     Active Substance: FUROSEMIDE
     Indication: Oedema
     Dosage: 4 MILLIGRAM, QD (1 EVERY 1 DAYS)
  683. FUROSEMIDE [Suspect]
     Active Substance: FUROSEMIDE
     Indication: Coronary artery disease
     Dosage: 40 MILLIGRAM, QD (1 EVERY 1 DAYS)
  684. FUROSEMIDE [Suspect]
     Active Substance: FUROSEMIDE
     Indication: Chest pain
     Dosage: 20 MILLIGRAM, QD (1 EVERY 1 DAYS)
  685. FUROSEMIDE [Suspect]
     Active Substance: FUROSEMIDE
     Indication: Constipation
  686. GALANTAMINE HYDROBROMIDE [Interacting]
     Active Substance: GALANTAMINE HYDROBROMIDE
     Indication: Dementia
  687. TIOTROPIUM BROMIDE MONOHYDRATE [Interacting]
     Active Substance: TIOTROPIUM BROMIDE MONOHYDRATE
     Indication: Asthma
  688. TIOTROPIUM BROMIDE MONOHYDRATE [Interacting]
     Active Substance: TIOTROPIUM BROMIDE MONOHYDRATE
     Indication: Chronic obstructive pulmonary disease
  689. TIOTROPIUM BROMIDE MONOHYDRATE [Interacting]
     Active Substance: TIOTROPIUM BROMIDE MONOHYDRATE
  690. TIOTROPIUM BROMIDE MONOHYDRATE [Interacting]
     Active Substance: TIOTROPIUM BROMIDE MONOHYDRATE
     Dosage: 1 DOSAGE FORM, QD (1 EVERY 1 DAY)
  691. ACETAMINOPHEN AND CODEINE [Suspect]
     Active Substance: ACETAMINOPHEN\CODEINE PHOSPHATE
     Indication: Pain
  692. GLUCOSAMINE [Interacting]
     Active Substance: GLUCOSAMINE
     Indication: Arthritis
  693. GLUCOSAMINE [Interacting]
     Active Substance: GLUCOSAMINE
     Indication: Pain
  694. GLUCOSAMINE [Interacting]
     Active Substance: GLUCOSAMINE
     Dosage: 500 MILLIGRAM, BID (2 EVERY 1 DAYS)
  695. GLUCOSAMINE [Suspect]
     Active Substance: GLUCOSAMINE
     Indication: Pain
     Dosage: 500 MILLIGRAM, BID (2 EVERY 1 DAY)
  696. GLUCOSAMINE [Suspect]
     Active Substance: GLUCOSAMINE
     Indication: Arthritis
     Dosage: 1000 MILLIGRAM, QD (1 EVERY 1 DAY)
  697. GLUCOSAMINE [Suspect]
     Active Substance: GLUCOSAMINE
     Dosage: 250 MILLIGRAM, QD (1 EVERY 1 DAY)
  698. GLUCOSAMINE [Suspect]
     Active Substance: GLUCOSAMINE
  699. LACTULOSE [Interacting]
     Active Substance: LACTULOSE
     Indication: Constipation
     Dosage: 15 MILLIGRAM, QD (1 EVERY 1 DAYS)
  700. DILTIAZEM HYDROCHLORIDE [Suspect]
     Active Substance: DILTIAZEM HYDROCHLORIDE
     Indication: Hypertension
     Dosage: 500 MILLIGRAM, QD (1 EVERY 1 DAYS)
  701. DILTIAZEM HYDROCHLORIDE [Suspect]
     Active Substance: DILTIAZEM HYDROCHLORIDE
     Indication: Coronary artery disease
  702. DILTIAZEM HYDROCHLORIDE [Suspect]
     Active Substance: DILTIAZEM HYDROCHLORIDE
     Indication: Chest pain
     Dosage: 36 MILLIGRAM, QD (1 EVERY 1DAY)
  703. DILTIAZEM HYDROCHLORIDE [Suspect]
     Active Substance: DILTIAZEM HYDROCHLORIDE
     Indication: Angina unstable
     Dosage: 300 MILLIGRAM, QD (1 EVERY 1 DAY)
  704. DILTIAZEM HYDROCHLORIDE [Suspect]
     Active Substance: DILTIAZEM HYDROCHLORIDE
     Indication: Angina pectoris
  705. DILTIAZEM HYDROCHLORIDE [Suspect]
     Active Substance: DILTIAZEM HYDROCHLORIDE
     Dosage: 360 MILLIGRAM, QD (1 EVERY 1 DAYS)
  706. DILTIAZEM HYDROCHLORIDE [Suspect]
     Active Substance: DILTIAZEM HYDROCHLORIDE
     Dosage: 115 MILLIGRAM, QD
  707. DILTIAZEM HYDROCHLORIDE [Suspect]
     Active Substance: DILTIAZEM HYDROCHLORIDE
     Dosage: 16 MILLIGRAM, QD (1 EVERY 1 DAY)
  708. DILTIAZEM HYDROCHLORIDE [Suspect]
     Active Substance: DILTIAZEM HYDROCHLORIDE
     Dosage: 75 MILLIGRAM, QD (1 EVERY 1 DAY)
  709. GALANTAMINE HYDROBROMIDE [Suspect]
     Active Substance: GALANTAMINE HYDROBROMIDE
     Indication: Dementia
     Dosage: 16 MILLIGRAM, QD (1 EVERY 1 DAYS)
  710. GALANTAMINE HYDROBROMIDE [Suspect]
     Active Substance: GALANTAMINE HYDROBROMIDE
  711. QUINAPRIL HYDROCHLORIDE [Suspect]
     Active Substance: QUINAPRIL HYDROCHLORIDE
     Indication: Hypertension
     Dosage: 20 MILLIGRAM, QD (1 EVERY 1 DAYS)
  712. QUINAPRIL HYDROCHLORIDE [Suspect]
     Active Substance: QUINAPRIL HYDROCHLORIDE
     Indication: Coronary artery disease
     Dosage: 40 MILLIGRAM, QD (1 EVERY 1 DAYS)
  713. QUINAPRIL HYDROCHLORIDE [Suspect]
     Active Substance: QUINAPRIL HYDROCHLORIDE
  714. LEVOTHYROXINE SODIUM [Interacting]
     Active Substance: LEVOTHYROXINE SODIUM
     Indication: Thyroid disorder
     Dosage: 0.088 MILLIGRAM, QD (1 EVERY 1 DAYS)
  715. LEVOTHYROXINE SODIUM [Interacting]
     Active Substance: LEVOTHYROXINE SODIUM
     Indication: Radioactive iodine therapy
     Dosage: 0.8 MILLIGRAM, QD (1 EVERY 1 DAYS)
  716. LEVOTHYROXINE SODIUM [Interacting]
     Active Substance: LEVOTHYROXINE SODIUM
  717. LEVOTHYROXINE SODIUM [Interacting]
     Active Substance: LEVOTHYROXINE SODIUM
     Dosage: 0.9 MILLIGRAM, QD (1 EVERY 1 DAYS)
  718. LEVOTHYROXINE SODIUM [Interacting]
     Active Substance: LEVOTHYROXINE SODIUM
     Dosage: 1244 MILLIGRAM, QD (1 EVERY 1 DAY)
  719. LEVOTHYROXINE SODIUM [Interacting]
     Active Substance: LEVOTHYROXINE SODIUM
  720. LEVOTHYROXINE SODIUM [Interacting]
     Active Substance: LEVOTHYROXINE SODIUM
     Dosage: 0.8 MILLIGRAM, QD (1 EVERY 1 DAYS)
  721. LEVOTHYROXINE SODIUM [Interacting]
     Active Substance: LEVOTHYROXINE SODIUM
     Dosage: 0.9 MILLIGRAM, QD (1 EVERY 1 DAYS)
  722. LEVOTHYROXINE SODIUM [Interacting]
     Active Substance: LEVOTHYROXINE SODIUM
     Dosage: 88 MILLIGRAM, QD (1 EVERY 1 DAYS)
  723. LEVOTHYROXINE SODIUM [Interacting]
     Active Substance: LEVOTHYROXINE SODIUM
     Dosage: 1 DOSAGE FORM, QD (1 EVERY 1 DAYS)
  724. LEVOTHYROXINE SODIUM [Interacting]
     Active Substance: LEVOTHYROXINE SODIUM
     Dosage: 0.88 MILLIGRAM, QD (1 EVERY 1 DAYS)
  725. LEVOTHYROXINE SODIUM [Interacting]
     Active Substance: LEVOTHYROXINE SODIUM
  726. LEVOTHYROXINE SODIUM [Interacting]
     Active Substance: LEVOTHYROXINE SODIUM
     Dosage: 0.09 MILLIGRAM, QD (1 EVERY 1 DAYS)
  727. PHENOLPHTHALEIN [Suspect]
     Active Substance: PHENOLPHTHALEIN
     Indication: Pain
  728. PERSANTINE [Interacting]
     Active Substance: DIPYRIDAMOLE
     Indication: Cerebrovascular accident
     Dosage: 2 DOSAGE FORM, QD (1 EVERY 1 DAYS)
  729. PERSANTINE [Interacting]
     Active Substance: DIPYRIDAMOLE
  730. PERSANTINE [Interacting]
     Active Substance: DIPYRIDAMOLE
  731. PERSANTINE [Interacting]
     Active Substance: DIPYRIDAMOLE
  732. PERSANTINE [Interacting]
     Active Substance: DIPYRIDAMOLE
     Dosage: 400 MILLIGRAM, QD (1 EVERY 1 DAY)
  733. PERSANTINE [Interacting]
     Active Substance: DIPYRIDAMOLE
  734. PERSANTINE [Interacting]
     Active Substance: DIPYRIDAMOLE
  735. PERSANTINE [Interacting]
     Active Substance: DIPYRIDAMOLE
     Dosage: 380 MILLIGRAM, QD (1 EVERY 1 DAY)
  736. PERSANTINE [Interacting]
     Active Substance: DIPYRIDAMOLE
  737. POTASSIUM SORBATE [Suspect]
     Active Substance: POTASSIUM SORBATE
     Indication: Product used for unknown indication
  738. AGGRENOX [Suspect]
     Active Substance: ASPIRIN\DIPYRIDAMOLE
     Indication: Cerebrovascular accident
  739. AGGRENOX [Suspect]
     Active Substance: ASPIRIN\DIPYRIDAMOLE
     Indication: Hypertension
     Dosage: 1 DOSAGE FORM, BID (2 EVERY 1 DAY)
  740. AGGRENOX [Suspect]
     Active Substance: ASPIRIN\DIPYRIDAMOLE
     Indication: Arthritis
  741. TIOTROPIUM BROMIDE MONOHYDRATE [Suspect]
     Active Substance: TIOTROPIUM BROMIDE MONOHYDRATE
     Indication: Asthma
     Dosage: 18 MICROGRAM, QD (1 EVERY 1 DAY)
  742. TIOTROPIUM BROMIDE MONOHYDRATE [Suspect]
     Active Substance: TIOTROPIUM BROMIDE MONOHYDRATE
     Indication: Chronic obstructive pulmonary disease
  743. CARBAMAZEPINE [Suspect]
     Active Substance: CARBAMAZEPINE
     Indication: Seizure prophylaxis
     Dosage: 800 MILLIGRAM, BID (2 EVERY 1 DAY)
  744. CARBAMAZEPINE [Suspect]
     Active Substance: CARBAMAZEPINE
     Indication: Fibromyalgia
  745. CARBAMAZEPINE [Suspect]
     Active Substance: CARBAMAZEPINE
     Indication: Bladder disorder
  746. CARBAMAZEPINE [Suspect]
     Active Substance: CARBAMAZEPINE
     Dosage: 2 DOSAGE FORM, QD (1 EVERY 1 DAY)
  747. CARBAMAZEPINE [Suspect]
     Active Substance: CARBAMAZEPINE
     Dosage: 1 DOSAGE FORM, BID
  748. CARBAMAZEPINE [Suspect]
     Active Substance: CARBAMAZEPINE
  749. CARBAMAZEPINE [Suspect]
     Active Substance: CARBAMAZEPINE
     Dosage: 200 MILLIGRAM, QD (1 EVERY 1 DAY)
  750. CARBAMAZEPINE [Suspect]
     Active Substance: CARBAMAZEPINE
     Dosage: 400 MILLIGRAM, BID (2 EVERY 1 DAY)
  751. CARBAMAZEPINE [Suspect]
     Active Substance: CARBAMAZEPINE
  752. CARBAMAZEPINE [Suspect]
     Active Substance: CARBAMAZEPINE
  753. CARBAMAZEPINE [Suspect]
     Active Substance: CARBAMAZEPINE
     Dosage: 1 DOSAGE FORM, QD (1 EVERY 1 DAY)
  754. OXAZEPAM [Interacting]
     Active Substance: OXAZEPAM
     Indication: Insomnia
     Dosage: 40 MILLIGRAM, QD (1 EVERY 1 DAYS)
  755. OXAZEPAM [Interacting]
     Active Substance: OXAZEPAM
     Indication: Hypertension
  756. OXAZEPAM [Interacting]
     Active Substance: OXAZEPAM
     Indication: Coronary artery disease
  757. AMLODIPINE MESYLATE [Suspect]
     Active Substance: AMLODIPINE MESYLATE
     Indication: Hypertension
     Dosage: 5 MILLIGRAM, QD (1 EVERY 1 DAYS)
  758. AMLODIPINE MESYLATE [Suspect]
     Active Substance: AMLODIPINE MESYLATE
     Indication: Coronary artery disease
  759. AMLODIPINE MESYLATE [Suspect]
     Active Substance: AMLODIPINE MESYLATE
     Indication: Angina pectoris
  760. MORPHINE SULFATE [Suspect]
     Active Substance: MORPHINE SULFATE
     Indication: Pain
  761. MORPHINE SULFATE [Suspect]
     Active Substance: MORPHINE SULFATE
     Indication: Fibromyalgia
     Dosage: 1 DOSAGE FORM, QD (1 EVERY 1 DAY)
  762. MORPHINE SULFATE [Suspect]
     Active Substance: MORPHINE SULFATE
     Indication: Chest pain
     Dosage: 2 DOSAGE FORM, QD (1 EVERY 1 DAYS)
  763. MORPHINE SULFATE [Suspect]
     Active Substance: MORPHINE SULFATE
  764. MORPHINE SULFATE [Suspect]
     Active Substance: MORPHINE SULFATE
     Dosage: 100 MILLIGRAM, QD (1 EVERY 1 DAY)
  765. SPIRIVA [Interacting]
     Active Substance: TIOTROPIUM BROMIDE MONOHYDRATE
     Indication: Chronic obstructive pulmonary disease
     Dosage: 18 MICROGRAM, QD (1 EVERY 1 DAYS)
  766. SPIRIVA [Interacting]
     Active Substance: TIOTROPIUM BROMIDE MONOHYDRATE
     Indication: Constipation
     Dosage: 18 MILLIGRAM, QD (1 EVERY 1 DAY)
  767. SPIRIVA [Interacting]
     Active Substance: TIOTROPIUM BROMIDE MONOHYDRATE
     Indication: Asthma
  768. CRANBERRY [Interacting]
     Active Substance: CRANBERRY
     Indication: Chronic obstructive pulmonary disease
  769. CRANBERRY [Interacting]
     Active Substance: CRANBERRY
     Indication: Bladder disorder
     Dosage: 500 MILLIGRAM, TID (3 EVERY 1 DAYS)
  770. CRANBERRY [Interacting]
     Active Substance: CRANBERRY
     Indication: Fibromyalgia
     Dosage: 4500 MILLIGRAM, TID (3 EVERY 1 DAYS)
  771. CRANBERRY [Interacting]
     Active Substance: CRANBERRY
  772. CRANBERRY [Interacting]
     Active Substance: CRANBERRY
     Dosage: 1500 MILLIGRAM, TID (3 EVERY 1 DAYS)
  773. CRANBERRY [Interacting]
     Active Substance: CRANBERRY
  774. CRANBERRY [Interacting]
     Active Substance: CRANBERRY
  775. CRANBERRY [Interacting]
     Active Substance: CRANBERRY
     Dosage: 4500 MILLIGRAM QD (1 EVERY 1 DAY)
  776. CRANBERRY [Interacting]
     Active Substance: CRANBERRY
     Dosage: 1500 MILLIGRAM QD (1 EVERY 1 DAY)
  777. CRANBERRY [Interacting]
     Active Substance: CRANBERRY
  778. CRANBERRY [Interacting]
     Active Substance: CRANBERRY
  779. CRANBERRY [Interacting]
     Active Substance: CRANBERRY
     Dosage: 500 MILLIGRAM, QD (1 EVERY 1 DAYS)
  780. MORPHINE SULFATE [Interacting]
     Active Substance: MORPHINE SULFATE
     Indication: Pain
  781. MORPHINE SULFATE [Interacting]
     Active Substance: MORPHINE SULFATE
     Indication: Fibromyalgia
     Dosage: 10 MILLIGRAM, QD (1 EVERY 1 DAYS)
  782. MORPHINE SULFATE [Interacting]
     Active Substance: MORPHINE SULFATE
     Indication: Chest pain
  783. MORPHINE SULFATE [Interacting]
     Active Substance: MORPHINE SULFATE
     Dosage: 100 MILLIGRAM, QD (1 EVERY 1 DAYS)
  784. MORPHINE SULFATE [Interacting]
     Active Substance: MORPHINE SULFATE
     Dosage: 10 MILLIGRAM, QD (1 EVERY 1 DAYS)
  785. GLYCERIN [Interacting]
     Active Substance: GLYCERIN
  786. TIOTROPIUM BROMIDE MONOHYDRATE [Concomitant]
     Active Substance: TIOTROPIUM BROMIDE MONOHYDRATE
  787. HERBALS\PLANTAGO OVATA LEAF [Concomitant]
     Active Substance: HERBALS\PLANTAGO OVATA LEAF
  788. SODIUM BENZOATE [Interacting]
     Active Substance: SODIUM BENZOATE
  789. POTASSIUM SORBATE [Concomitant]
     Active Substance: POTASSIUM SORBATE
  790. PHOSPHORIC ACID [Concomitant]
     Active Substance: PHOSPHORIC ACID
  791. CALCIUM POLYCARBOPHIL [Concomitant]
     Active Substance: CALCIUM POLYCARBOPHIL
  792. CALCIUM ASCORBATE [Concomitant]
     Active Substance: CALCIUM ASCORBATE
  793. ACETAMINOPHEN [Concomitant]
     Active Substance: ACETAMINOPHEN
     Indication: Pain
  794. ACETAMINOPHEN [Concomitant]
     Active Substance: ACETAMINOPHEN
     Dosage: 600 MILLIGRAM, QD (1 EVERY 1 DAYS)
  795. AGGRENOX [Concomitant]
     Active Substance: ASPIRIN\DIPYRIDAMOLE
     Indication: Cerebrovascular accident
     Dosage: 200 MILLIGRAM, BID (2 EVERY 1 DAYS)
  796. AGGRENOX [Concomitant]
     Active Substance: ASPIRIN\DIPYRIDAMOLE
  797. AGGRENOX [Concomitant]
     Active Substance: ASPIRIN\DIPYRIDAMOLE
     Indication: Cerebrovascular accident
     Dosage: 25 MILLIGRAM, BID (2 EVERY 1 DAYS)
  798. AMITRIPTYLINE [Concomitant]
     Active Substance: AMITRIPTYLINE
     Indication: Insomnia
  799. AMITRIPTYLINE [Concomitant]
     Active Substance: AMITRIPTYLINE
  800. Fibre soluble;Glycerol;Phosphoric acid;Potassium sorbate;Sodium benzoa [Concomitant]
     Indication: Constipation
  801. GALANTAMINE HYDROBROMIDE [Concomitant]
     Active Substance: GALANTAMINE HYDROBROMIDE
     Indication: Dementia
     Dosage: 16 MILLIGRAM, QD (1 EVERY 1 DAYS)
  802. GLUCOSAMINE SULFATE [Concomitant]
     Active Substance: GLUCOSAMINE SULFATE
     Indication: Arthritis
     Dosage: 500 MILLIGRAM, BID (2 EVERY 1 DAYS)
  803. LACTULOSE [Concomitant]
     Active Substance: LACTULOSE
     Indication: Constipation
     Dosage: 15 MILLILITER, QD (1 EVERY 1 DAYS)
  804. LEVOFLOXACIN HEMIHYDRATE [Concomitant]
     Active Substance: LEVOFLOXACIN
     Indication: Urinary tract infection
     Dosage: 250 MILLIGRAM, QD (1 EVERY 1 DAYS)
  805. LEVOTHYROXINE SODIUM [Concomitant]
     Active Substance: LEVOTHYROXINE SODIUM
     Indication: Thyroid disorder
     Dosage: 0.088 MILLIGRAM, QD (1 EVERY 1 DAYS)
  806. MAGNESIUM HYDROXIDE [Concomitant]
     Active Substance: MAGNESIUM HYDROXIDE
     Indication: Constipation
  807. OMEPRAZOLE [Concomitant]
     Active Substance: OMEPRAZOLE
     Indication: Duodenal ulcer
     Dosage: 20 MILLIGRAM, QD (1 EVERY 1 DAYS)
  808. ROSUVASTATIN CALCIUM [Concomitant]
     Active Substance: ROSUVASTATIN CALCIUM
     Indication: Cerebrovascular accident
     Dosage: 20 MILLIGRAM, BID (2 EVERY 1 DAYS)
  809. ALBUTEROL [Concomitant]
     Active Substance: ALBUTEROL
     Indication: Product used for unknown indication
  810. SPIRIVA [Concomitant]
     Active Substance: TIOTROPIUM BROMIDE MONOHYDRATE
     Indication: Chronic obstructive pulmonary disease
     Dosage: 18 MICROGRAM, QD (1 EVERY 1 DAYS)
  811. CRANBERRY [Concomitant]
     Active Substance: CRANBERRY
  812. PSYLLIUM HUSK [Concomitant]
     Active Substance: PSYLLIUM HUSK
  813. ZINC [Concomitant]
     Active Substance: ZINC
  814. ASPIRIN [Concomitant]
     Active Substance: ASPIRIN
     Indication: Product used for unknown indication
  815. ASPIRIN\SODIUM BICARBONATE [Concomitant]
     Active Substance: ASPIRIN\SODIUM BICARBONATE
     Indication: Product used for unknown indication
  816. ASPIRIN\DIPYRIDAMOLE [Concomitant]
     Active Substance: ASPIRIN\DIPYRIDAMOLE
     Indication: Cerebrovascular accident
  817. ASPIRIN\DIPYRIDAMOLE [Concomitant]
     Active Substance: ASPIRIN\DIPYRIDAMOLE
     Dosage: 2 DOSAGE FORM, QD (1 EVERY 1 DAYS)
  818. ASCORBIC ACID\CRANBERRY [Concomitant]
     Active Substance: ASCORBIC ACID\CRANBERRY
     Indication: Product used for unknown indication
     Dosage: 500 MILLIGRAM, QD (1 EVERY 1 DAYS)
  819. FRUCTOSE\GLYCERIN\SODIUM CHLORIDE [Concomitant]
     Active Substance: FRUCTOSE\GLYCERIN\SODIUM CHLORIDE
     Indication: Product used for unknown indication
  820. ASCORBIC ACID\CRANBERRY [Concomitant]
     Active Substance: ASCORBIC ACID\CRANBERRY
     Indication: Bladder ablation
     Dosage: 500 MILLIGRAM, QD (1 EVERY 1 DAYS)
  821. ASCORBIC ACID\CRANBERRY [Concomitant]
     Active Substance: ASCORBIC ACID\CRANBERRY
  822. VITAMIN C [Concomitant]
     Active Substance: ASCORBIC ACID
  823. VITAMIN C [Concomitant]
     Active Substance: ASCORBIC ACID
  824. VITAMIN C [Concomitant]
     Active Substance: ASCORBIC ACID
     Dosage: 500 MILLIGRAM, QD (1 EVERY 1 DAYS)
  825. ZINC SALICYLATE [Concomitant]
     Active Substance: ZINC SALICYLATE
  826. ACEBUTOLOL HYDROCHLORIDE [Interacting]
     Active Substance: ACEBUTOLOL HYDROCHLORIDE
     Indication: Hypertension
     Dosage: 400 MILLIGRAM, QW (1 EVERY 1 WEEKS)
  827. ACEBUTOLOL HYDROCHLORIDE [Interacting]
     Active Substance: ACEBUTOLOL HYDROCHLORIDE
     Indication: Coronary artery disease
     Dosage: 800 MILLIGRAM, QD (1 EVERY 1 DAYS)
  828. ACEBUTOLOL HYDROCHLORIDE [Interacting]
     Active Substance: ACEBUTOLOL HYDROCHLORIDE
     Indication: Angina pectoris
     Dosage: 50 MILLIGRAM, QD (1 EVERY 1 DAYS)
  829. ACEBUTOLOL HYDROCHLORIDE [Interacting]
     Active Substance: ACEBUTOLOL HYDROCHLORIDE
     Indication: Constipation
     Dosage: 100 MILLIGRAM, QD (1 EVERY 1 DAYS)
  830. ACEBUTOLOL HYDROCHLORIDE [Interacting]
     Active Substance: ACEBUTOLOL HYDROCHLORIDE
     Indication: Chest pain
     Dosage: 1000 MILLIGRAM, QW (1 EVERY 1 WEEKS)
  831. ACEBUTOLOL HYDROCHLORIDE [Interacting]
     Active Substance: ACEBUTOLOL HYDROCHLORIDE
     Dosage: 500 MILLIGRAM, QD (1 EVERY 1 DAYS)
  832. ACEBUTOLOL HYDROCHLORIDE [Interacting]
     Active Substance: ACEBUTOLOL HYDROCHLORIDE
     Dosage: 200 MILLIGRAM, BID (1 EVERY 12 HOURS)
  833. ACEBUTOLOL HYDROCHLORIDE [Interacting]
     Active Substance: ACEBUTOLOL HYDROCHLORIDE
     Dosage: 200 MILLIGRAM, QD (1 EVERY 1 DAYS)
  834. ACEBUTOLOL HYDROCHLORIDE [Interacting]
     Active Substance: ACEBUTOLOL HYDROCHLORIDE
     Dosage: 400 MILLIGRAM, QD (1 EVERY 1 DAYS)
  835. ACEBUTOLOL HYDROCHLORIDE [Interacting]
     Active Substance: ACEBUTOLOL HYDROCHLORIDE
     Dosage: 50 MILLIGRAM, BID (1 EVERY 12 HOURS)
  836. ACEBUTOLOL HYDROCHLORIDE [Interacting]
     Active Substance: ACEBUTOLOL HYDROCHLORIDE
  837. ACEBUTOLOL HYDROCHLORIDE [Interacting]
     Active Substance: ACEBUTOLOL HYDROCHLORIDE
  838. ACETAMINOPHEN [Interacting]
     Active Substance: ACETAMINOPHEN
     Indication: Hypertension
     Dosage: 50 MILLIGRAM, QD (1 EVERY 1 DAYS))
  839. ACETAMINOPHEN [Interacting]
     Active Substance: ACETAMINOPHEN
     Indication: Coronary artery disease
     Dosage: 650 MILLIGRAM, QD (1 EVERY 1 DAY)
  840. ACETAMINOPHEN [Interacting]
     Active Substance: ACETAMINOPHEN
     Indication: Angina pectoris
     Dosage: 650 MILLIGRAM, QD (1 EVERY 6 HOURS)
  841. ACETAMINOPHEN [Interacting]
     Active Substance: ACETAMINOPHEN
     Indication: Radioactive iodine therapy
     Dosage: 600 MILLIGRAM, QD (1 EVERY 1 DAY)
  842. ACETAMINOPHEN [Interacting]
     Active Substance: ACETAMINOPHEN
     Indication: Chest pain
  843. ACETAMINOPHEN [Interacting]
     Active Substance: ACETAMINOPHEN
     Indication: Pain
  844. ACETAMINOPHEN [Interacting]
     Active Substance: ACETAMINOPHEN
     Indication: Chronic obstructive pulmonary disease
  845. ACETAMINOPHEN [Interacting]
     Active Substance: ACETAMINOPHEN
     Indication: Cerebrovascular accident
  846. ACETAMINOPHEN [Interacting]
     Active Substance: ACETAMINOPHEN
     Indication: Fibromyalgia
  847. ACETAMINOPHEN\CODEINE PHOSPHATE [Interacting]
     Active Substance: ACETAMINOPHEN\CODEINE PHOSPHATE
     Indication: Pain
  848. ASPIRIN [Interacting]
     Active Substance: ASPIRIN
     Indication: Hypertension
  849. ASPIRIN [Interacting]
     Active Substance: ASPIRIN
     Indication: Coronary artery disease
  850. ASPIRIN [Interacting]
     Active Substance: ASPIRIN
     Indication: Cerebrovascular accident
     Dosage: 1 DOSAGE FORM, BID (1 EVERY 12 HOURS)
  851. ASPIRIN [Interacting]
     Active Substance: ASPIRIN
     Indication: Angina pectoris
  852. ASPIRIN [Interacting]
     Active Substance: ASPIRIN
     Dosage: 2 DOSAGE FORM, QD (1 EVERY 24 HOURS)
  853. AGGRENOX [Interacting]
     Active Substance: ASPIRIN\DIPYRIDAMOLE
     Indication: Cerebrovascular accident
  854. AGGRENOX [Interacting]
     Active Substance: ASPIRIN\DIPYRIDAMOLE
     Indication: Hypertension
  855. AGGRENOX [Interacting]
     Active Substance: ASPIRIN\DIPYRIDAMOLE
     Indication: Arthritis
     Dosage: 1 DOSAGE FORM, BID (2 EVERY 1 DAY)
  856. AGGRENOX [Interacting]
     Active Substance: ASPIRIN\DIPYRIDAMOLE
     Dosage: 2 DOSAGE FORM, QW (1 EVERY 1 WEEK)
  857. AGGRENOX [Interacting]
     Active Substance: ASPIRIN\DIPYRIDAMOLE
  858. AGGRENOX [Interacting]
     Active Substance: ASPIRIN\DIPYRIDAMOLE
     Dosage: 2 DOSAGE FORM, QD (1 EVERY 1 DAYS)
  859. AGGRENOX [Interacting]
     Active Substance: ASPIRIN\DIPYRIDAMOLE
     Dosage: 2 DOSAGE FORM, BID (2 EVERY 1 DAY)
  860. AGGRENOX [Interacting]
     Active Substance: ASPIRIN\DIPYRIDAMOLE
  861. AGGRENOX [Interacting]
     Active Substance: ASPIRIN\DIPYRIDAMOLE
     Dosage: 75 MILLIGRAM, QD (1 EVERY 1 DAYS)
  862. AGGRENOX [Interacting]
     Active Substance: ASPIRIN\DIPYRIDAMOLE
     Dosage: 50 MILLIGRAM, QD (1 EVERY 1 DAYS)
  863. AGGRENOX [Interacting]
     Active Substance: ASPIRIN\DIPYRIDAMOLE
     Dosage: 4 DOSAGE FORM, QD (1 EVERY 1 DAYS)
  864. AGGRENOX [Interacting]
     Active Substance: ASPIRIN\DIPYRIDAMOLE
     Dosage: 1 DOSAGE FORM, QD (1 EVERY 1 DAYS)
  865. AGGRENOX [Interacting]
     Active Substance: ASPIRIN\DIPYRIDAMOLE
     Dosage: 50 DOSAGE FORM, QD (1 EVERY 1 DAYS)
  866. AMITRIPTYLINE [Interacting]
     Active Substance: AMITRIPTYLINE
     Indication: Thyroid disorder
     Dosage: 25 MILLIGRAM, QD (1 EVERY 1 DAY)
  867. AMITRIPTYLINE [Interacting]
     Active Substance: AMITRIPTYLINE
     Indication: Radioactive iodine therapy
     Dosage: 75 MILLIGRAM, QD (1 EVERY 1 DAY)
  868. AMITRIPTYLINE [Interacting]
     Active Substance: AMITRIPTYLINE
     Indication: Prophylaxis
     Dosage: 750 MILLIGRAM, QD (1 EVERY 1 DAY)
  869. AMITRIPTYLINE [Interacting]
     Active Substance: AMITRIPTYLINE
     Indication: Pain
     Dosage: 50 MILLIGRAM, QD (1 EVERY 1 DAY)
  870. AMITRIPTYLINE [Interacting]
     Active Substance: AMITRIPTYLINE
     Indication: Oedema
  871. AMITRIPTYLINE [Interacting]
     Active Substance: AMITRIPTYLINE
     Indication: Insomnia
  872. AMITRIPTYLINE [Interacting]
     Active Substance: AMITRIPTYLINE
     Indication: Hypertension
  873. AMITRIPTYLINE [Interacting]
     Active Substance: AMITRIPTYLINE
     Indication: Fibromyalgia
  874. AMITRIPTYLINE [Interacting]
     Active Substance: AMITRIPTYLINE
     Indication: Duodenal ulcer
  875. AMITRIPTYLINE [Interacting]
     Active Substance: AMITRIPTYLINE
     Indication: Dementia
  876. AMITRIPTYLINE [Interacting]
     Active Substance: AMITRIPTYLINE
     Indication: Coronary artery disease
  877. AMITRIPTYLINE [Interacting]
     Active Substance: AMITRIPTYLINE
     Indication: Constipation
  878. AMITRIPTYLINE [Interacting]
     Active Substance: AMITRIPTYLINE
     Indication: Chest pain
  879. AMITRIPTYLINE [Interacting]
     Active Substance: AMITRIPTYLINE
     Indication: Arthritis
  880. AMITRIPTYLINE [Interacting]
     Active Substance: AMITRIPTYLINE
     Indication: Angina pectoris
  881. AMITRIPTYLINE HYDROCHLORIDE\PERPHENAZINE [Interacting]
     Active Substance: AMITRIPTYLINE HYDROCHLORIDE\PERPHENAZINE
     Indication: Insomnia
  882. AMITRIPTYLINE HYDROCHLORIDE\PERPHENAZINE [Interacting]
     Active Substance: AMITRIPTYLINE HYDROCHLORIDE\PERPHENAZINE
     Indication: Hypertension
     Dosage: 75 MILLIGRAM, QD (1 EVERY 1 DAYS)
  883. AMITRIPTYLINE HYDROCHLORIDE\PERPHENAZINE [Interacting]
     Active Substance: AMITRIPTYLINE HYDROCHLORIDE\PERPHENAZINE
     Indication: Fibromyalgia
     Dosage: 50 MILLIGRAM, QD (1 EVERY 1 DAYS)
  884. AMITRIPTYLINE HYDROCHLORIDE\PERPHENAZINE [Interacting]
     Active Substance: AMITRIPTYLINE HYDROCHLORIDE\PERPHENAZINE
     Indication: Duodenal ulcer
  885. AMITRIPTYLINE HYDROCHLORIDE\PERPHENAZINE [Interacting]
     Active Substance: AMITRIPTYLINE HYDROCHLORIDE\PERPHENAZINE
     Indication: Dementia
  886. AMITRIPTYLINE HYDROCHLORIDE\PERPHENAZINE [Interacting]
     Active Substance: AMITRIPTYLINE HYDROCHLORIDE\PERPHENAZINE
     Indication: Coronary artery disease
  887. AMITRIPTYLINE HYDROCHLORIDE\PERPHENAZINE [Interacting]
     Active Substance: AMITRIPTYLINE HYDROCHLORIDE\PERPHENAZINE
     Indication: Constipation
  888. AMITRIPTYLINE HYDROCHLORIDE\PERPHENAZINE [Interacting]
     Active Substance: AMITRIPTYLINE HYDROCHLORIDE\PERPHENAZINE
     Indication: Chest pain
  889. AMITRIPTYLINE HYDROCHLORIDE\PERPHENAZINE [Interacting]
     Active Substance: AMITRIPTYLINE HYDROCHLORIDE\PERPHENAZINE
     Indication: Arthritis
  890. AMITRIPTYLINE HYDROCHLORIDE\PERPHENAZINE [Interacting]
     Active Substance: AMITRIPTYLINE HYDROCHLORIDE\PERPHENAZINE
     Indication: Angina pectoris
  891. AMITRIPTYLINE PAMOATE\PERPHENAZINE [Interacting]
     Active Substance: AMITRIPTYLINE PAMOATE\PERPHENAZINE
     Indication: Insomnia
  892. AMITRIPTYLINE PAMOATE\PERPHENAZINE [Interacting]
     Active Substance: AMITRIPTYLINE PAMOATE\PERPHENAZINE
     Indication: Hypertension
     Dosage: UNK, QD (1 EVERY 1 DAY)
  893. AMITRIPTYLINE PAMOATE\PERPHENAZINE [Interacting]
     Active Substance: AMITRIPTYLINE PAMOATE\PERPHENAZINE
     Indication: Fibromyalgia
     Dosage: 75 MILLIGRAM, QD (1 EVERY 1 DAY)
  894. AMITRIPTYLINE PAMOATE\PERPHENAZINE [Interacting]
     Active Substance: AMITRIPTYLINE PAMOATE\PERPHENAZINE
     Indication: Duodenal ulcer
     Dosage: 50 MILLIGRAM, QD (1 EVERY 1 DAY)
  895. AMITRIPTYLINE PAMOATE\PERPHENAZINE [Interacting]
     Active Substance: AMITRIPTYLINE PAMOATE\PERPHENAZINE
     Indication: Dementia
  896. AMITRIPTYLINE PAMOATE\PERPHENAZINE [Interacting]
     Active Substance: AMITRIPTYLINE PAMOATE\PERPHENAZINE
     Indication: Coronary artery disease
  897. AMITRIPTYLINE PAMOATE\PERPHENAZINE [Interacting]
     Active Substance: AMITRIPTYLINE PAMOATE\PERPHENAZINE
     Indication: Constipation
  898. AMITRIPTYLINE PAMOATE\PERPHENAZINE [Interacting]
     Active Substance: AMITRIPTYLINE PAMOATE\PERPHENAZINE
     Indication: Chest pain
  899. AMITRIPTYLINE PAMOATE\PERPHENAZINE [Interacting]
     Active Substance: AMITRIPTYLINE PAMOATE\PERPHENAZINE
     Indication: Arthritis
  900. AMITRIPTYLINE PAMOATE\PERPHENAZINE [Interacting]
     Active Substance: AMITRIPTYLINE PAMOATE\PERPHENAZINE
     Indication: Angina pectoris
  901. AMLODIPINE MESYLATE [Interacting]
     Active Substance: AMLODIPINE MESYLATE
     Indication: Hypertension
     Dosage: 5 MILLIGRAM, QD (1 EVERY 1 DAYS)
  902. AMLODIPINE MESYLATE [Interacting]
     Active Substance: AMLODIPINE MESYLATE
     Indication: Coronary artery disease
  903. AMLODIPINE MESYLATE [Interacting]
     Active Substance: AMLODIPINE MESYLATE
     Indication: Chest pain
  904. AMLODIPINE MESYLATE [Interacting]
     Active Substance: AMLODIPINE MESYLATE
     Indication: Angina pectoris
  905. CYCLOBENZAPRINE [Interacting]
     Active Substance: CYCLOBENZAPRINE
     Indication: Seizure prophylaxis
     Dosage: 15 MILLIGRAM, QID (1 EVERY 8 HOURS)
  906. CYCLOBENZAPRINE [Interacting]
     Active Substance: CYCLOBENZAPRINE
     Indication: Fibromyalgia
  907. CYCLOBENZAPRINE [Interacting]
     Active Substance: CYCLOBENZAPRINE
  908. CYCLOBENZAPRINE [Interacting]
     Active Substance: CYCLOBENZAPRINE
     Dosage: 5 MILLIGRAM, QID (1 EVERY 8 HOURS)
  909. CALCIUM ASCORBATE [Suspect]
     Active Substance: CALCIUM ASCORBATE
     Indication: Product used for unknown indication
  910. CARBAMAZEPINE [Suspect]
     Active Substance: CARBAMAZEPINE
     Indication: Seizure prophylaxis
     Dosage: 400 MILLIGRAM, BID (2 EVERY 1 DAY)
  911. CARBAMAZEPINE [Suspect]
     Active Substance: CARBAMAZEPINE
     Indication: Fibromyalgia
     Dosage: 500 MILLIGRAM, QD (1 EVERY 1 DAYS)
  912. CARBAMAZEPINE [Suspect]
     Active Substance: CARBAMAZEPINE
     Indication: Bladder disorder
     Dosage: 1 DOSAGE FORM, BID (1 EVERY 12 HOURS)
  913. CARBAMAZEPINE [Suspect]
     Active Substance: CARBAMAZEPINE
     Indication: Pain
     Dosage: 500 MILLIGRAM, BID (1 EVERY 12 HOURS)
  914. CARBAMAZEPINE [Suspect]
     Active Substance: CARBAMAZEPINE
     Dosage: 100 MILLIGRAM, QD (1 EVERY 1 DAYS)
  915. CARBAMAZEPINE [Suspect]
     Active Substance: CARBAMAZEPINE
     Dosage: 200 MILLIGRAM, BID (2 EVERY 1 DAYS)
  916. CARBAMAZEPINE [Suspect]
     Active Substance: CARBAMAZEPINE
     Dosage: 100 MILLIGRAM, BID (2 EVERY 1 DAYS)
  917. CARBAMAZEPINE [Suspect]
     Active Substance: CARBAMAZEPINE
     Dosage: 800 MILLIGRAM, BID (2 EVERY 1 DAY)
  918. CARBAMAZEPINE [Suspect]
     Active Substance: CARBAMAZEPINE
     Dosage: 2000 MILLIGRAM, QD (1 EVERY 1 DAYS)
  919. CARBAMAZEPINE [Suspect]
     Active Substance: CARBAMAZEPINE
     Dosage: 200 MILLIGRAM, QD (1 EVERY 1 DAYS)
  920. CARBAMAZEPINE [Suspect]
     Active Substance: CARBAMAZEPINE
     Dosage: 2 DOSAGE FORM, QD (1 EVERY 1 DAYS)
  921. CARBAMAZEPINE [Suspect]
     Active Substance: CARBAMAZEPINE
  922. CARBAMAZEPINE [Suspect]
     Active Substance: CARBAMAZEPINE
  923. CARBAMAZEPINE [Suspect]
     Active Substance: CARBAMAZEPINE
     Dosage: 400 MILLIGRAM, QD (1 EVERY 1 DAY)
  924. CARBAMAZEPINE [Suspect]
     Active Substance: CARBAMAZEPINE
     Dosage: 2 DOSAGE FORM, BID (1 EVERY 12 HOURS)
  925. CARBAMAZEPINE [Suspect]
     Active Substance: CARBAMAZEPINE
  926. CARBAMAZEPINE [Suspect]
     Active Substance: CARBAMAZEPINE
  927. CARBAMAZEPINE [Suspect]
     Active Substance: CARBAMAZEPINE
     Dosage: 1 DOSAGE FORM, QD (1 EVERY 1 DAYS)
  928. CARBAMAZEPINE [Suspect]
     Active Substance: CARBAMAZEPINE
     Dosage: 10 MILLIGRAM, QD (1 EVERY 1 DAYS)
  929. CARBAMAZEPINE [Suspect]
     Active Substance: CARBAMAZEPINE
  930. CARBAMAZEPINE [Suspect]
     Active Substance: CARBAMAZEPINE
     Dosage: UNK, BID (2 EVERY 1 DAYS)
  931. CYCLOBENZAPRINE [Interacting]
     Active Substance: CYCLOBENZAPRINE
     Indication: Pain
     Dosage: 200 MILLIGRAM, QD (1 EVERY 1 DAYS)
  932. CYCLOBENZAPRINE [Interacting]
     Active Substance: CYCLOBENZAPRINE
     Indication: Fibromyalgia
     Dosage: 15 MILLIGRAM, QID (1 EVERY 8 HOURS)
  933. CYCLOBENZAPRINE [Interacting]
     Active Substance: CYCLOBENZAPRINE
     Indication: Seizure prophylaxis
     Dosage: 5 MILLIGRAM, QID (1 EVERY 8 HOURS)
  934. CYCLOBENZAPRINE [Interacting]
     Active Substance: CYCLOBENZAPRINE
     Indication: Seizure
     Dosage: 10 MILLIGRAM, QD (1 EVERY 1 DAYS)
  935. CYCLOBENZAPRINE [Interacting]
     Active Substance: CYCLOBENZAPRINE
  936. CYCLOBENZAPRINE [Interacting]
     Active Substance: CYCLOBENZAPRINE
     Dosage: 0.33 MILLIGRAM, QD (1 EVERY 1 DAYS)
  937. CYCLOBENZAPRINE [Interacting]
     Active Substance: CYCLOBENZAPRINE
     Dosage: 1.87 MILLIGRAM, QD (1 EVERY 1 DAYS)
  938. CYCLOBENZAPRINE [Interacting]
     Active Substance: CYCLOBENZAPRINE
     Dosage: 2 MILLIGRAM, QD (1 EVERY 1 DAYS)
  939. CYCLOBENZAPRINE [Interacting]
     Active Substance: CYCLOBENZAPRINE
     Dosage: 200 MILLIGRAM, BID (1 EVERY 12 HOURS)
  940. CYCLOBENZAPRINE [Interacting]
     Active Substance: CYCLOBENZAPRINE
     Dosage: 100 MILLIGRAM, BID (1 EVERY 12 HOURS)
  941. CYCLOBENZAPRINE [Interacting]
     Active Substance: CYCLOBENZAPRINE
  942. CYCLOBENZAPRINE [Interacting]
     Active Substance: CYCLOBENZAPRINE
     Dosage: 45 MILLIGRAM, QD (1 EVERY 1 DAYS)
  943. CYCLOBENZAPRINE [Interacting]
     Active Substance: CYCLOBENZAPRINE
  944. CYCLOBENZAPRINE [Interacting]
     Active Substance: CYCLOBENZAPRINE
     Dosage: 5 MILLIGRAM, BID (1 EVERY 12 HOURS)
  945. CYCLOBENZAPRINE [Interacting]
     Active Substance: CYCLOBENZAPRINE
     Dosage: 0.5 MILLIGRAM, QD (1 EVERY 1 DAYS)
  946. CYCLOBENZAPRINE [Interacting]
     Active Substance: CYCLOBENZAPRINE
     Dosage: 0.25 MILLIGRAM, QD (1 EVERY 1 DAYS)
  947. CYCLOBENZAPRINE [Interacting]
     Active Substance: CYCLOBENZAPRINE
  948. CYCLOBENZAPRINE [Interacting]
     Active Substance: CYCLOBENZAPRINE
  949. CYCLOBENZAPRINE [Interacting]
     Active Substance: CYCLOBENZAPRINE
     Dosage: 5 MICROGRAM, QID (1 EVERY 8 HOURS)
  950. CYCLOBENZAPRINE [Interacting]
     Active Substance: CYCLOBENZAPRINE
     Dosage: 5.61 MILLIGRAM, QD (1 EVERY 1 DAYS)
  951. CYCLOBENZAPRINE [Interacting]
     Active Substance: CYCLOBENZAPRINE
  952. CYCLOBENZAPRINE [Interacting]
     Active Substance: CYCLOBENZAPRINE
     Dosage: 15 MILLIGRAM, QD (1 EVERY 1 DAYS)
  953. CYCLOBENZAPRINE [Interacting]
     Active Substance: CYCLOBENZAPRINE
     Dosage: 360 MILLIGRAM, QD (1 EVERY 1 DAYS)
  954. CYCLOBENZAPRINE [Interacting]
     Active Substance: CYCLOBENZAPRINE
     Dosage: 1.8 MILLIGRAM, QD (1 EVERY 1 DAYS)
  955. CYCLOBENZAPRINE [Interacting]
     Active Substance: CYCLOBENZAPRINE
  956. CYCLOBENZAPRINE [Interacting]
     Active Substance: CYCLOBENZAPRINE
     Dosage: 200 MICROGRAM, Q2H (1 EVERY 2 HOURS)
  957. CYCLOBENZAPRINE [Interacting]
     Active Substance: CYCLOBENZAPRINE
     Dosage: 0.63 MILLIGRAM, BID (1 EVERY 12 HOURS)
  958. CYCLOBENZAPRINE [Interacting]
     Active Substance: CYCLOBENZAPRINE
  959. CYCLOBENZAPRINE [Interacting]
     Active Substance: CYCLOBENZAPRINE
  960. CYCLOBENZAPRINE [Interacting]
     Active Substance: CYCLOBENZAPRINE
  961. CYCLOBENZAPRINE [Interacting]
     Active Substance: CYCLOBENZAPRINE
     Dosage: 1.87 MILLIGRAM, TID (3 EVERY 1 DAY)
  962. CYCLOBENZAPRINE [Interacting]
     Active Substance: CYCLOBENZAPRINE
     Dosage: 5 MILLIGRAM, QD (1 EVERY 1 DAYS)
  963. CYCLOBENZAPRINE [Interacting]
     Active Substance: CYCLOBENZAPRINE
  964. CYCLOBENZAPRINE [Interacting]
     Active Substance: CYCLOBENZAPRINE
  965. CYCLOBENZAPRINE [Interacting]
     Active Substance: CYCLOBENZAPRINE
     Dosage: 200 MICROGRAM, BID (2 EVERY 1 DAYS)
  966. CYCLOBENZAPRINE [Interacting]
     Active Substance: CYCLOBENZAPRINE
     Dosage: 1 MILLIGRAM, QD (1 EVERY 1 DAY)
  967. CYCLOBENZAPRINE [Interacting]
     Active Substance: CYCLOBENZAPRINE
     Dosage: 500 MILLIGRAM, QID (1 EVERY 8 HOURS)
  968. CYCLOBENZAPRINE [Interacting]
     Active Substance: CYCLOBENZAPRINE
     Dosage: 15 MICROGRAM, QID (1 EVERY 8 HOURS)
  969. CYCLOBENZAPRINE [Interacting]
     Active Substance: CYCLOBENZAPRINE
  970. DILTIAZEM HYDROCHLORIDE [Suspect]
     Active Substance: DILTIAZEM HYDROCHLORIDE
     Indication: Hypertension
     Dosage: 360 MILLIGRAM, QD (1 EVERY 1 DAYS)
  971. DILTIAZEM HYDROCHLORIDE [Suspect]
     Active Substance: DILTIAZEM HYDROCHLORIDE
     Indication: Coronary artery disease
  972. DILTIAZEM HYDROCHLORIDE [Suspect]
     Active Substance: DILTIAZEM HYDROCHLORIDE
     Indication: Chest pain
     Dosage: 40 MILLIGRAM, QD (1 EVERY 1 DAYS)
  973. DILTIAZEM HYDROCHLORIDE [Suspect]
     Active Substance: DILTIAZEM HYDROCHLORIDE
     Indication: Angina pectoris
     Dosage: 300 MILLIGRAM, QD (1 EVERY 1 DAYS)
  974. DILTIAZEM HYDROCHLORIDE [Suspect]
     Active Substance: DILTIAZEM HYDROCHLORIDE
     Dosage: 15 MILLIGRAM, QD (1 EVERY 1 DAYS)
  975. DIPYRIDAMOLE [Interacting]
     Active Substance: DIPYRIDAMOLE
     Indication: Cerebrovascular accident
     Dosage: 1 DOSAGE FORM, QD (1 EVERY 1 DAYS)
  976. DIPYRIDAMOLE [Interacting]
     Active Substance: DIPYRIDAMOLE
     Dosage: 2 DOSAGE FORM, BID (2 EVERY 1 DAY)
  977. DIPYRIDAMOLE [Interacting]
     Active Substance: DIPYRIDAMOLE
  978. DIPYRIDAMOLE [Interacting]
     Active Substance: DIPYRIDAMOLE
     Dosage: UNK, QD (1 EVERY 1 DAY)
  979. DIPYRIDAMOLE [Interacting]
     Active Substance: DIPYRIDAMOLE
     Dosage: 400 MILLIGRAM, QD (1 EVERY 1 DAYS)
  980. DIPYRIDAMOLE [Interacting]
     Active Substance: DIPYRIDAMOLE
  981. DIPYRIDAMOLE [Interacting]
     Active Substance: DIPYRIDAMOLE
     Dosage: 5 MILLIGRAM, BID (1 EVERY 12 HOURS)
  982. DIPYRIDAMOLE [Interacting]
     Active Substance: DIPYRIDAMOLE
  983. DIPYRIDAMOLE [Interacting]
     Active Substance: DIPYRIDAMOLE
  984. DIPYRIDAMOLE [Interacting]
     Active Substance: DIPYRIDAMOLE
     Dosage: 1 MILLIGRAM, QD (1 EVERY 1 DAYS)
  985. DIPYRIDAMOLE [Interacting]
     Active Substance: DIPYRIDAMOLE
     Dosage: 360 MILLIGRAM, QD (1 EVERY 1 DAYS)
  986. DIPYRIDAMOLE [Interacting]
     Active Substance: DIPYRIDAMOLE
     Dosage: 2 DOSAGE FORM, BID (1 EVERY 12 HOURS)
  987. DIPYRIDAMOLE [Interacting]
     Active Substance: DIPYRIDAMOLE
     Dosage: 200 MILLIGRAM, BID (2 EVERY 1 DAYS)
  988. DIPYRIDAMOLE [Interacting]
     Active Substance: DIPYRIDAMOLE
  989. DIPYRIDAMOLE [Interacting]
     Active Substance: DIPYRIDAMOLE
  990. DIPYRIDAMOLE [Interacting]
     Active Substance: DIPYRIDAMOLE
     Dosage: 2 DOSAGE FORM, QD (1 EVERY 1 DAYS)
  991. DIPYRIDAMOLE [Interacting]
     Active Substance: DIPYRIDAMOLE
  992. DIPYRIDAMOLE [Interacting]
     Active Substance: DIPYRIDAMOLE
  993. DIPYRIDAMOLE [Interacting]
     Active Substance: DIPYRIDAMOLE
  994. DIPYRIDAMOLE [Interacting]
     Active Substance: DIPYRIDAMOLE
     Dosage: 1 DOSAGE FORM, QD (2 EVERY 1 DAYS)
  995. DULCOLAX (BISACODYL) [Interacting]
     Active Substance: BISACODYL
     Indication: Constipation
  996. DULCOLAX (BISACODYL) [Interacting]
     Active Substance: BISACODYL
  997. DULCOLAX (BISACODYL) [Interacting]
     Active Substance: BISACODYL
     Dosage: 650 MILLIGRAM, QD (1 EVERY 1 DAY)
  998. DULCOLAX (BISACODYL) [Interacting]
     Active Substance: BISACODYL
     Dosage: 1 DOSAGE FORM, QD (1 EVERY 1 DAYS)
  999. DULCOLAX (BISACODYL) [Interacting]
     Active Substance: BISACODYL
     Dosage: 2 DOSAGE FORM, QD (1 EVERY 1 DAYS)
  1000. DULCOLAX (BISACODYL) [Interacting]
     Active Substance: BISACODYL
  1001. DULCOLAX (BISACODYL) [Interacting]
     Active Substance: BISACODYL
  1002. GALANTAMINE [Interacting]
     Active Substance: GALANTAMINE
     Indication: Dementia
     Dosage: 16 MILLIGRAM, QD (1 EVERY 1 DAY)
  1003. GALANTAMINE [Interacting]
     Active Substance: GALANTAMINE
     Indication: Dementia
  1004. GALANTAMINE [Interacting]
     Active Substance: GALANTAMINE
     Dosage: 16 MILLIGRAM, QD (1 EVERY 1 DAY)
  1005. GALANTAMINE [Interacting]
     Active Substance: GALANTAMINE
     Dosage: 18 MILLIGRAM, QD (1 EVERY 1 DAY)
  1006. GALANTAMINE [Interacting]
     Active Substance: GALANTAMINE
  1007. GALANTAMINE HYDROBROMIDE [Interacting]
     Active Substance: GALANTAMINE HYDROBROMIDE
     Indication: Dementia
     Dosage: 16 MILLIGRAM, QD (1 EVERY 1 DAY)
  1008. GALANTAMINE HYDROBROMIDE [Interacting]
     Active Substance: GALANTAMINE HYDROBROMIDE
  1009. GALANTAMINE HYDROBROMIDE [Interacting]
     Active Substance: GALANTAMINE HYDROBROMIDE
     Dosage: 18 MILLIGRAM, QD (1 EVERY 1 DAY)
  1010. GALANTAMINE HYDROBROMIDE [Interacting]
     Active Substance: GALANTAMINE HYDROBROMIDE
  1011. GLUCOSAMINE SULFATE [Interacting]
     Active Substance: GLUCOSAMINE SULFATE
     Indication: Arthritis
  1012. GLUCOSAMINE SULFATE [Interacting]
     Active Substance: GLUCOSAMINE SULFATE
     Indication: Pain
  1013. GLUCOSAMINE SULFATE [Interacting]
     Active Substance: GLUCOSAMINE SULFATE
     Dosage: 500 MILLIGRAM, QD (1 EVERY 1 DAYS)
  1014. GLUCOSAMINE SULFATE [Interacting]
     Active Substance: GLUCOSAMINE SULFATE
     Dosage: 500 MILLIGRAM, BID (2 EVERY 1 DAYS)
  1015. GLUCOSAMINE SULFATE [Interacting]
     Active Substance: GLUCOSAMINE SULFATE
     Dosage: 1000 MILLIGRAM, QD (1 EVERY 1 DAYS)
  1016. GLUCOSAMINE SULFATE [Interacting]
     Active Substance: GLUCOSAMINE SULFATE
     Dosage: 2500 MILLIGRAM, QD (1 EVERY 1 DAYS)
  1017. NITROGLYCERIN [Interacting]
     Active Substance: NITROGLYCERIN
     Indication: Hypertension
     Dosage: 0.4 MILLIGRAM, QD (1 EVERY 1 DAYS)
  1018. NITROGLYCERIN [Interacting]
     Active Substance: NITROGLYCERIN
     Indication: Coronary artery disease
     Dosage: 0.6 MILLIGRAM, QD (1 EVERY 1 DAYS)
  1019. NITROGLYCERIN [Interacting]
     Active Substance: NITROGLYCERIN
     Indication: Chest pain
     Dosage: 4 MILLIGRAM, QD (1 EVERY 1 DAYS)
  1020. NITROGLYCERIN [Interacting]
     Active Substance: NITROGLYCERIN
     Indication: Angina pectoris
  1021. NITROGLYCERIN [Interacting]
     Active Substance: NITROGLYCERIN
  1022. NITROGLYCERIN [Interacting]
     Active Substance: NITROGLYCERIN
  1023. NITROGLYCERIN [Interacting]
     Active Substance: NITROGLYCERIN
     Dosage: 6 MILLIGRAM, QD (1 EVERY 1 DAYS)
  1024. NITROGLYCERIN [Interacting]
     Active Substance: NITROGLYCERIN
  1025. NITROGLYCERIN [Interacting]
     Active Substance: NITROGLYCERIN
  1026. NITROGLYCERIN [Interacting]
     Active Substance: NITROGLYCERIN
     Dosage: UNK, QD (1 EVERY 1 DAY)
  1027. NITROGLYCERIN [Interacting]
     Active Substance: NITROGLYCERIN
  1028. NITROGLYCERIN [Interacting]
     Active Substance: NITROGLYCERIN
     Dosage: 1 DOSAGE FORM, QD (1 EVERY 1 DAYS)
  1029. NITROGLYCERIN [Interacting]
     Active Substance: NITROGLYCERIN
     Dosage: 0.4 MILLIGRAM, QD (1 EVERY 1 DAYS)
  1030. NITROGLYCERIN [Interacting]
     Active Substance: NITROGLYCERIN
     Dosage: 20 MILLIGRAM, QD (1 EVERY 1 DAYS)
  1031. NITROGLYCERIN [Interacting]
     Active Substance: NITROGLYCERIN
     Dosage: 0.4 DOSAGE FORM, QD (1 EVERY 1 DAY)
  1032. LACTULOSE [Interacting]
     Active Substance: LACTULOSE
     Indication: Constipation
     Dosage: 15 MILLIGRAM, QD (1 EVERY 1 DAY)
  1033. LACTULOSE [Interacting]
     Active Substance: LACTULOSE
     Indication: Thyroid disorder
     Dosage: UNK, QD (1 EVERY 1 DAY)
  1034. LACTULOSE [Interacting]
     Active Substance: LACTULOSE
     Indication: Radioactive iodine therapy
     Dosage: 2 DOSAGE FORM, QD (1 EVERY 1 DAYS)
  1035. LACTULOSE [Interacting]
     Active Substance: LACTULOSE
     Indication: Urinary tract infection
  1036. LACTULOSE [Interacting]
     Active Substance: LACTULOSE
  1037. LACTULOSE [Interacting]
     Active Substance: LACTULOSE
  1038. LACTULOSE [Interacting]
     Active Substance: LACTULOSE
     Dosage: 15 MILLILITER, QD (1 EVERY 1 DAY)
  1039. LEVOFLOXACIN HEMIHYDRATE [Interacting]
     Active Substance: LEVOFLOXACIN
     Indication: Thyroid disorder
     Dosage: 250 MILLIGRAM, QD (1 EVERY 1 DAY)
  1040. LEVOFLOXACIN HEMIHYDRATE [Interacting]
     Active Substance: LEVOFLOXACIN
     Indication: Radioactive iodine therapy
     Dosage: 200 MILLIGRAM, QD (1 EVERY 1 DAY)
  1041. LEVOFLOXACIN HEMIHYDRATE [Interacting]
     Active Substance: LEVOFLOXACIN
     Indication: Urinary tract infection
     Dosage: 15 MILLIGRAM, QD (1 EVERY 1 DAY)
  1042. LEVOFLOXACIN HEMIHYDRATE [Interacting]
     Active Substance: LEVOFLOXACIN
     Dosage: 650 MILLIGRAM, QD (1 EVERY 1 DAY)
  1043. LEVOFLOXACIN HEMIHYDRATE [Interacting]
     Active Substance: LEVOFLOXACIN
     Dosage: 600 MILLIGRAM, QD (1 EVERY 1 DAY)
  1044. LEVOTHYROXINE SODIUM [Interacting]
     Active Substance: LEVOTHYROXINE SODIUM
     Indication: Thyroid disorder
     Dosage: 0.09 MILLIGRAM, QD (1 EVERY 1 DAYS)
  1045. LEVOTHYROXINE SODIUM [Interacting]
     Active Substance: LEVOTHYROXINE SODIUM
     Indication: Radioactive iodine therapy
     Dosage: 0.8 MILLIGRAM, QD (1 EVERY 1 DAYS)
  1046. LEVOTHYROXINE SODIUM [Interacting]
     Active Substance: LEVOTHYROXINE SODIUM
     Indication: Urinary tract infection
     Dosage: 1 DOSAGE FORM, QD (1 EVERY 1 DAYS)
  1047. LEVOTHYROXINE SODIUM [Interacting]
     Active Substance: LEVOTHYROXINE SODIUM
     Indication: Constipation
  1048. LEVOTHYROXINE SODIUM [Interacting]
     Active Substance: LEVOTHYROXINE SODIUM
  1049. LEVOTHYROXINE SODIUM [Interacting]
     Active Substance: LEVOTHYROXINE SODIUM
     Dosage: 88 MILLIGRAM, QD (1 EVERY 1 DAYS)
  1050. LEVOTHYROXINE SODIUM [Interacting]
     Active Substance: LEVOTHYROXINE SODIUM
     Dosage: 0.9 MILLIGRAM, QD (1 EVERY 1 DAYS)
  1051. LEVOTHYROXINE SODIUM [Interacting]
     Active Substance: LEVOTHYROXINE SODIUM
     Dosage: 1244 MILLIGRAM, QD (1 EVERY 1 DAYS)
  1052. LEVOTHYROXINE SODIUM [Interacting]
     Active Substance: LEVOTHYROXINE SODIUM
     Dosage: 0.89 MILLIGRAM, QD (1 EVERY 1 DAYS)
  1053. LEVOTHYROXINE SODIUM [Interacting]
     Active Substance: LEVOTHYROXINE SODIUM
     Dosage: 0.9 MILLIGRAM, QD (1 EVERY 1 DAYS)
  1054. LEVOTHYROXINE SODIUM [Interacting]
     Active Substance: LEVOTHYROXINE SODIUM
  1055. LEVOTHYROXINE SODIUM [Interacting]
     Active Substance: LEVOTHYROXINE SODIUM
     Dosage: 0.9 MILLIGRAM, QD (1 EVERY 1 DAYS)
  1056. LEVOTHYROXINE SODIUM [Interacting]
     Active Substance: LEVOTHYROXINE SODIUM
     Dosage: 250 MILLIGRAM, BID (2 EVERY 1 DAY)
  1057. LEVOTHYROXINE SODIUM [Interacting]
     Active Substance: LEVOTHYROXINE SODIUM
  1058. LEVOTHYROXINE SODIUM [Interacting]
     Active Substance: LEVOTHYROXINE SODIUM
     Dosage: 250 MILLIGRAM, QD (1 EVERY 1 DAYS)
  1059. LEVOTHYROXINE SODIUM [Interacting]
     Active Substance: LEVOTHYROXINE SODIUM
  1060. LEVOTHYROXINE SODIUM [Interacting]
     Active Substance: LEVOTHYROXINE SODIUM
     Dosage: 0.088 MILLIGRAM, QD (1 EVERY 1 DAYS)
  1061. LEVOTHYROXINE SODIUM [Interacting]
     Active Substance: LEVOTHYROXINE SODIUM
     Dosage: 622 MILLIGRAM, BID (2 EVERY 1 DAY)
  1062. LEVOTHYROXINE SODIUM [Interacting]
     Active Substance: LEVOTHYROXINE SODIUM
     Dosage: 0.09 MILLIGRAM, QD (1 EVERY 1 DAYS)
  1063. LEVOTHYROXINE SODIUM [Interacting]
     Active Substance: LEVOTHYROXINE SODIUM
     Dosage: 0.88 MILLIGRAM, QD (1 EVERY 1 DAYS)
  1064. LEVOTHYROXINE SODIUM [Interacting]
     Active Substance: LEVOTHYROXINE SODIUM
     Dosage: UNK, QD (1 EVERY 1 DAY)
  1065. MORPHINE SULFATE [Suspect]
     Active Substance: MORPHINE SULFATE
     Indication: Pain
     Dosage: 2 DOSAGE FORM, QD (1 EVERY 1 DAYS)
  1066. MORPHINE SULFATE [Suspect]
     Active Substance: MORPHINE SULFATE
     Indication: Fibromyalgia
     Dosage: 1 DOSAGE FORM, QD (1 EVERY 1 DAYS)
  1067. MORPHINE SULFATE [Suspect]
     Active Substance: MORPHINE SULFATE
     Indication: Chest pain
     Dosage: 20 MILLIGRAM, QD (1 EVERY 1 DAYS)
  1068. MORPHINE SULFATE [Suspect]
     Active Substance: MORPHINE SULFATE
     Indication: Dyspnoea
  1069. MORPHINE SULFATE [Suspect]
     Active Substance: MORPHINE SULFATE
     Dosage: 10 MILLIGRAM, QD (1 EVERY 1 DAYS)
  1070. MORPHINE SULFATE [Suspect]
     Active Substance: MORPHINE SULFATE
     Dosage: UNK, QD (1 EVERY 1 DAY)
  1071. MORPHINE SULFATE [Suspect]
     Active Substance: MORPHINE SULFATE
  1072. MORPHINE SULFATE [Suspect]
     Active Substance: MORPHINE SULFATE
  1073. MORPHINE SULFATE [Suspect]
     Active Substance: MORPHINE SULFATE
     Dosage: 100 MILLIGRAM, QD (1 EVERY 1 DAYS)
  1074. PERPHENAZINE [Interacting]
     Active Substance: PERPHENAZINE
     Indication: Insomnia
     Dosage: 75 MILLIGRAM, QD (1 EVERY 1 DAYS)
  1075. HERBALS\PLANTAGO OVATA LEAF [Suspect]
     Active Substance: HERBALS\PLANTAGO OVATA LEAF
     Indication: Constipation
  1076. HERBALS\PLANTAGO OVATA LEAF [Suspect]
     Active Substance: HERBALS\PLANTAGO OVATA LEAF
     Dosage: 500 MILLIGRAM, TID (1 EVERY 8 HOURS)
  1077. HERBALS\PLANTAGO OVATA LEAF [Suspect]
     Active Substance: HERBALS\PLANTAGO OVATA LEAF
     Dosage: UNK, TID (1 EVERY 8 HOURS)
  1078. QUINAPRIL [Suspect]
     Active Substance: QUINAPRIL
     Indication: Seizure prophylaxis
     Dosage: 20 MILLIGRAM, QD (1 EVERY 1 DAYS)
  1079. QUINAPRIL [Suspect]
     Active Substance: QUINAPRIL
     Indication: Seizure
  1080. QUINAPRIL [Suspect]
     Active Substance: QUINAPRIL
     Indication: Pain
  1081. QUINAPRIL [Suspect]
     Active Substance: QUINAPRIL
     Indication: Insomnia
  1082. QUINAPRIL [Suspect]
     Active Substance: QUINAPRIL
     Indication: Hypertension
  1083. QUINAPRIL [Suspect]
     Active Substance: QUINAPRIL
     Indication: Fibromyalgia
  1084. QUINAPRIL [Suspect]
     Active Substance: QUINAPRIL
     Indication: Coronary artery disease
  1085. QUINAPRIL [Suspect]
     Active Substance: QUINAPRIL
     Indication: Chest pain
  1086. QUINAPRIL [Suspect]
     Active Substance: QUINAPRIL
     Indication: Cerebrovascular accident
  1087. QUINAPRIL [Suspect]
     Active Substance: QUINAPRIL
     Indication: Angina pectoris
  1088. QUINAPRIL [Suspect]
     Active Substance: QUINAPRIL
     Indication: Seizure prophylaxis
     Dosage: 40 MILLIGRAM, QD (1 EVERY 1 DAYS)
  1089. QUINAPRIL [Suspect]
     Active Substance: QUINAPRIL
     Indication: Seizure
  1090. QUINAPRIL [Suspect]
     Active Substance: QUINAPRIL
     Indication: Pain
     Dosage: 400 MILLIGRAM, QD (1 EVERY 1 DAYS)
  1091. QUINAPRIL [Suspect]
     Active Substance: QUINAPRIL
     Indication: Insomnia
     Dosage: 800 MILLIGRAM, QD (1 EVERY 1 DAYS)
  1092. QUINAPRIL [Suspect]
     Active Substance: QUINAPRIL
     Indication: Hypertension
     Dosage: 200 MILLIGRAM, QID (1 EVERY 6 HOURS)
  1093. QUINAPRIL [Suspect]
     Active Substance: QUINAPRIL
     Indication: Fibromyalgia
  1094. QUINAPRIL [Suspect]
     Active Substance: QUINAPRIL
     Indication: Coronary artery disease
  1095. QUINAPRIL [Suspect]
     Active Substance: QUINAPRIL
     Indication: Chest pain
  1096. QUINAPRIL [Suspect]
     Active Substance: QUINAPRIL
     Indication: Cerebrovascular accident
  1097. QUINAPRIL [Suspect]
     Active Substance: QUINAPRIL
     Indication: Angina pectoris
  1098. ROSUVASTATIN CALCIUM [Interacting]
     Active Substance: ROSUVASTATIN CALCIUM
     Indication: Cerebrovascular accident
     Dosage: 20 MILLIGRAM, BID (1 EVERY 12 HOURS)
  1099. ROSUVASTATIN CALCIUM [Interacting]
     Active Substance: ROSUVASTATIN CALCIUM
     Indication: Insomnia
  1100. ROSUVASTATIN CALCIUM [Interacting]
     Active Substance: ROSUVASTATIN CALCIUM
     Indication: Hypertension
     Dosage: 200 MILLIGRAM, BID (1 EVERY 12 HOURS)
  1101. ROSUVASTATIN CALCIUM [Interacting]
     Active Substance: ROSUVASTATIN CALCIUM
     Indication: Coronary artery disease
     Dosage: 10 MILLIGRAM, BID (1 EVERY 12 HOURS)
  1102. ROSUVASTATIN CALCIUM [Interacting]
     Active Substance: ROSUVASTATIN CALCIUM
     Indication: Chronic obstructive pulmonary disease
     Dosage: 20 MILLIGRAM, BID (2 EVERY 1 DAY)
  1103. ROSUVASTATIN CALCIUM [Interacting]
     Active Substance: ROSUVASTATIN CALCIUM
     Indication: Chest pain
     Dosage: 400 MILLIGRAM, QD (1 EVERY 1 DAYS)
  1104. ROSUVASTATIN CALCIUM [Interacting]
     Active Substance: ROSUVASTATIN CALCIUM
     Indication: Angina pectoris
  1105. ROSUVASTATIN CALCIUM [Interacting]
     Active Substance: ROSUVASTATIN CALCIUM
     Dosage: 20 MILLIGRAM, QD (1 EVERY 1 DAYS)
  1106. ROSUVASTATIN CALCIUM [Interacting]
     Active Substance: ROSUVASTATIN CALCIUM
     Dosage: 200 MILLIGRAM, QID (1 EVERY 6 HOURS)
  1107. ROSUVASTATIN CALCIUM [Interacting]
     Active Substance: ROSUVASTATIN CALCIUM
  1108. ROSUVASTATIN CALCIUM [Interacting]
     Active Substance: ROSUVASTATIN CALCIUM
     Dosage: 40 MILLIGRAM, QD (1 EVERY 1 DAYS)
  1109. ROSUVASTATIN CALCIUM [Interacting]
     Active Substance: ROSUVASTATIN CALCIUM
  1110. ROSUVASTATIN CALCIUM [Interacting]
     Active Substance: ROSUVASTATIN CALCIUM
     Dosage: 40 MILLIGRAM, QD (1 EVERY 1 DAYS)
  1111. ROSUVASTATIN CALCIUM [Interacting]
     Active Substance: ROSUVASTATIN CALCIUM
  1112. ROSUVASTATIN CALCIUM [Interacting]
     Active Substance: ROSUVASTATIN CALCIUM
  1113. ROSUVASTATIN CALCIUM [Interacting]
     Active Substance: ROSUVASTATIN CALCIUM
     Dosage: 20 MILLIGRAM, QD (1 EVERY 1 DAYS)
  1114. ROSUVASTATIN CALCIUM [Interacting]
     Active Substance: ROSUVASTATIN CALCIUM
  1115. ROSUVASTATIN CALCIUM [Interacting]
     Active Substance: ROSUVASTATIN CALCIUM
     Dosage: 10 MILLIGRAM, QD (1 EVERY 1 DAYS)
  1116. ROSUVASTATIN CALCIUM [Interacting]
     Active Substance: ROSUVASTATIN CALCIUM
     Dosage: 30 MILLIGRAM, QD (1 EVERY 1 DAYS)
  1117. ROSUVASTATIN CALCIUM [Interacting]
     Active Substance: ROSUVASTATIN CALCIUM
     Dosage: 200 MILLIGRAM, Q2H (1 EVERY 2 HOURS)
  1118. SPIRIVA [Interacting]
     Active Substance: TIOTROPIUM BROMIDE MONOHYDRATE
     Indication: Chronic obstructive pulmonary disease
     Dosage: 18 MICROGRAM, QD (1 EVERY 1 DAYS)
  1119. SPIRIVA [Interacting]
     Active Substance: TIOTROPIUM BROMIDE MONOHYDRATE
     Indication: Constipation
  1120. SPIRIVA [Interacting]
     Active Substance: TIOTROPIUM BROMIDE MONOHYDRATE
  1121. SPIRIVA [Interacting]
     Active Substance: TIOTROPIUM BROMIDE MONOHYDRATE
  1122. SPIRIVA [Interacting]
     Active Substance: TIOTROPIUM BROMIDE MONOHYDRATE
     Dosage: 18 MILLIGRAM, QD (1 EVERY 1 DAY)
  1123. CRANBERRY [Interacting]
     Active Substance: CRANBERRY
     Indication: Chronic obstructive pulmonary disease
  1124. CRANBERRY [Interacting]
     Active Substance: CRANBERRY
     Indication: Bladder disorder
     Dosage: 500 MILLIGRAM, TID (3 EVERY 1 DAYS)
  1125. CRANBERRY [Interacting]
     Active Substance: CRANBERRY
     Indication: Chronic obstructive pulmonary disease
     Dosage: 500 MILLIGRAM, TID (3 EVERY 1 DAYS)
  1126. CRANBERRY [Interacting]
     Active Substance: CRANBERRY
     Indication: Bladder disorder
     Dosage: 1500 MILLIGRAM, QD (1 EVERY 1 DAY)
  1127. CRANBERRY [Interacting]
     Active Substance: CRANBERRY
     Indication: Fibromyalgia
  1128. CRANBERRY [Interacting]
     Active Substance: CRANBERRY
     Dosage: 1500 MILLIGRAM, TID (3 EVERY 1 DAY)
  1129. CRANBERRY [Interacting]
     Active Substance: CRANBERRY
  1130. CRANBERRY [Interacting]
     Active Substance: CRANBERRY
     Dosage: 500 MILLIGRAM, QD (1 EVERY 1 DAY)
  1131. HERBALS [Interacting]
     Active Substance: HERBALS
     Indication: Bladder disorder
     Dosage: 1500 MILLIGRAM, QD (1 EVERY 1 DAYS)
  1132. HERBALS [Interacting]
     Active Substance: HERBALS
  1133. HERBALS [Interacting]
     Active Substance: HERBALS
     Dosage: 500 MILLIGRAM, Q8H (1 EVERY 8 HOURS)
  1134. ATROPINE [Interacting]
     Active Substance: ATROPINE
  1135. NITROGLYCERIN [Interacting]
     Active Substance: NITROGLYCERIN
  1136. PAPAVERINE [Interacting]
     Active Substance: PAPAVERINE
  1137. PHENOBARBITAL [Interacting]
     Active Substance: PHENOBARBITAL

REACTIONS (24)
  - Cognitive disorder [Recovered/Resolved]
  - Fall [Recovered/Resolved]
  - Multiple drug therapy [Recovered/Resolved]
  - Sedation complication [Recovered/Resolved]
  - Orthostatic hypotension [Recovered/Resolved]
  - Constipation [Recovered/Resolved]
  - Balance disorder [Recovered/Resolved]
  - Sedation [Recovered/Resolved]
  - Blood calcium decreased [Recovered/Resolved]
  - Creatinine renal clearance decreased [Recovered/Resolved]
  - Depressed level of consciousness [Recovered/Resolved]
  - Hypotension [Recovered/Resolved]
  - Mobility decreased [Recovered/Resolved]
  - Pain [Recovered/Resolved]
  - Creatinine renal clearance increased [Recovered/Resolved]
  - Renal function test abnormal [Recovered/Resolved]
  - Dyspnoea [Recovered/Resolved]
  - Toxicity to various agents [Recovered/Resolved]
  - Drug abuse [Recovered/Resolved]
  - Off label use [Recovered/Resolved]
  - Drug interaction [Recovered/Resolved]
  - Product use in unapproved indication [Recovered/Resolved]
  - Overdose [Recovered/Resolved]
  - Dementia [Recovered/Resolved]
